FAERS Safety Report 24319622 (Version 2)
Quarter: 2024Q4

REPORT INFORMATION
  Report Type: Other
  Country: GB (occurrence: GB)
  Receive Date: 20240914
  Receipt Date: 20241109
  Transmission Date: 20250114
  Serious: Yes (Other)
  Sender: ZYDUS PHARM
  Company Number: None

PATIENT

DRUGS (746)
  1. MESALAMINE [Suspect]
     Active Substance: MESALAMINE
     Indication: Colitis ulcerative
     Dosage: 4.8 MILLIGRAM
     Route: 065
  2. MESALAMINE [Suspect]
     Active Substance: MESALAMINE
     Dosage: 50 MILLIGRAM
     Route: 048
  3. MESALAMINE [Suspect]
     Active Substance: MESALAMINE
     Dosage: 50 MILLIGRAM
     Route: 048
  4. MESALAMINE [Suspect]
     Active Substance: MESALAMINE
     Dosage: 50 MILLIGRAM
     Route: 065
  5. MESALAMINE [Suspect]
     Active Substance: MESALAMINE
     Dosage: 6 DOSAGE FORM, QD
     Route: 065
  6. MESALAMINE [Suspect]
     Active Substance: MESALAMINE
     Dosage: 8 DOSAGE FORM, PER 8 WEEKS
     Route: 048
  7. MESALAMINE [Suspect]
     Active Substance: MESALAMINE
     Dosage: 4.8 MILLIGRAM, QD
     Route: 065
  8. MESALAMINE [Suspect]
     Active Substance: MESALAMINE
     Dosage: 50 MILLIGRAM
     Route: 065
  9. MESALAMINE [Suspect]
     Active Substance: MESALAMINE
     Dosage: 50 MILLIGRAM
     Route: 065
  10. MESALAMINE [Suspect]
     Active Substance: MESALAMINE
     Dosage: UNK, QD
     Route: 065
  11. MESALAMINE [Suspect]
     Active Substance: MESALAMINE
     Dosage: 4.8 MILLIGRAM, QD
     Route: 065
  12. MESALAMINE [Suspect]
     Active Substance: MESALAMINE
     Dosage: 50 MILLIGRAM
     Route: 065
  13. MESALAMINE [Suspect]
     Active Substance: MESALAMINE
     Dosage: 8 DOSAGE FORM, PER 8 WEEKS
     Route: 065
  14. MESALAMINE [Suspect]
     Active Substance: MESALAMINE
     Dosage: UNK
     Route: 048
  15. MESALAMINE [Suspect]
     Active Substance: MESALAMINE
     Dosage: 2.4 GRAM, QD
     Route: 065
  16. MESALAMINE [Suspect]
     Active Substance: MESALAMINE
     Dosage: UNK, QD
     Route: 048
  17. MESALAMINE [Suspect]
     Active Substance: MESALAMINE
     Dosage: UNK, QD
     Route: 065
  18. MESALAMINE [Suspect]
     Active Substance: MESALAMINE
     Dosage: 8 DOSAGE FORM, PER 8 WEEKS
     Route: 048
  19. MESALAMINE [Suspect]
     Active Substance: MESALAMINE
     Dosage: 8 DOSAGE FORM, PER 8 WEEKS
     Route: 048
  20. MESALAMINE [Suspect]
     Active Substance: MESALAMINE
     Dosage: UNK
     Route: 048
  21. MESALAMINE [Suspect]
     Active Substance: MESALAMINE
     Dosage: UNK
     Route: 048
  22. MESALAMINE [Suspect]
     Active Substance: MESALAMINE
     Dosage: UNK
     Route: 065
  23. MESALAMINE [Suspect]
     Active Substance: MESALAMINE
     Dosage: UNK
     Route: 065
  24. MESALAMINE [Suspect]
     Active Substance: MESALAMINE
     Dosage: UNK
     Route: 065
  25. MESALAMINE [Suspect]
     Active Substance: MESALAMINE
     Dosage: UNK
     Route: 065
  26. MESALAMINE [Suspect]
     Active Substance: MESALAMINE
     Dosage: UNK
     Route: 065
  27. MESALAMINE [Suspect]
     Active Substance: MESALAMINE
     Dosage: UNK
     Route: 065
  28. MESALAMINE [Suspect]
     Active Substance: MESALAMINE
     Dosage: UNK
     Route: 065
  29. MESALAMINE [Suspect]
     Active Substance: MESALAMINE
     Dosage: 1 DOSAGE FORM, QD
     Route: 048
  30. MESALAMINE [Suspect]
     Active Substance: MESALAMINE
     Dosage: 2.4 GRAM, QD
     Route: 065
  31. MESALAMINE [Suspect]
     Active Substance: MESALAMINE
     Dosage: 3 GRAM, QD
     Route: 065
  32. MESALAMINE [Suspect]
     Active Substance: MESALAMINE
     Dosage: 6 DOSAGE FORM, QD
     Route: 048
  33. MESALAMINE [Suspect]
     Active Substance: MESALAMINE
     Dosage: 4.8 GRAM
     Route: 065
  34. MESALAMINE [Suspect]
     Active Substance: MESALAMINE
     Dosage: 6 DOSAGE FORM, QD
     Route: 065
     Dates: start: 20161001
  35. MESALAMINE [Suspect]
     Active Substance: MESALAMINE
     Dosage: 2.4 GRAM, QD
     Route: 065
     Dates: start: 20161001
  36. MESALAMINE [Suspect]
     Active Substance: MESALAMINE
     Dosage: UNK UNK, QD
     Route: 065
     Dates: start: 2017, end: 201709
  37. MESALAMINE [Suspect]
     Active Substance: MESALAMINE
     Dosage: 3 DOSAGE FORM, BID
     Route: 065
     Dates: start: 201610, end: 201709
  38. MESALAMINE [Suspect]
     Active Substance: MESALAMINE
     Dosage: 50 MILLIGRAM, BID
     Route: 065
     Dates: start: 20170101, end: 20170901
  39. MESALAMINE [Suspect]
     Active Substance: MESALAMINE
     Dosage: UNK, BID
     Route: 065
     Dates: start: 20170101, end: 20170901
  40. MESALAMINE [Suspect]
     Active Substance: MESALAMINE
     Dosage: 50 MILLIGRAM
     Route: 065
     Dates: start: 20160101, end: 20161001
  41. MESALAMINE [Suspect]
     Active Substance: MESALAMINE
     Dosage: UNK MILLIGRAM
     Route: 065
     Dates: start: 20160101, end: 20161001
  42. MESALAMINE [Suspect]
     Active Substance: MESALAMINE
     Dosage: 4.8 GRAM, QD
     Route: 065
     Dates: start: 20161001
  43. MESALAMINE [Suspect]
     Active Substance: MESALAMINE
     Dosage: UNK
     Route: 065
     Dates: start: 201709
  44. MESALAMINE [Suspect]
     Active Substance: MESALAMINE
     Dosage: UNK
     Route: 065
     Dates: start: 201709, end: 201709
  45. MESALAMINE [Suspect]
     Active Substance: MESALAMINE
     Dosage: UNK
     Route: 065
     Dates: start: 20161001
  46. MESALAMINE [Suspect]
     Active Substance: MESALAMINE
     Dosage: 2.4 GRAM
     Route: 065
  47. MESALAMINE [Suspect]
     Active Substance: MESALAMINE
     Dosage: 50 MILLIGRAM
     Route: 065
  48. MESALAMINE [Suspect]
     Active Substance: MESALAMINE
     Dosage: 50 MILLIGRAM
     Route: 065
  49. MESALAMINE [Suspect]
     Active Substance: MESALAMINE
     Dosage: 4.8 GRAM
     Route: 065
  50. MESALAMINE [Suspect]
     Active Substance: MESALAMINE
     Dosage: UNK
     Route: 065
  51. ACETAMINOPHEN [Suspect]
     Active Substance: ACETAMINOPHEN
     Indication: Ill-defined disorder
     Dosage: 500 MILLIGRAM, 4 DOSE PER 1 D
     Route: 065
  52. ACETAMINOPHEN [Suspect]
     Active Substance: ACETAMINOPHEN
     Dosage: UNK
     Route: 065
  53. ACETAMINOPHEN [Suspect]
     Active Substance: ACETAMINOPHEN
     Dosage: 500 MILLIGRAM
     Route: 065
  54. ADALIMUMAB [Suspect]
     Active Substance: ADALIMUMAB
     Indication: Crohn^s disease
     Dosage: UNK
     Route: 065
     Dates: start: 201707
  55. ADALIMUMAB [Suspect]
     Active Substance: ADALIMUMAB
     Indication: Colitis ulcerative
     Dosage: UNK, TABLET
     Route: 065
  56. ADALIMUMAB [Suspect]
     Active Substance: ADALIMUMAB
     Indication: Deep vein thrombosis
     Dosage: 8 DOSAGE FORM, SOLUTION, SUBCUTANEOUS
     Route: 058
  57. ADALIMUMAB [Suspect]
     Active Substance: ADALIMUMAB
     Dosage: 8 DOSAGE FORM, SOLUTION FOR INJECTION
     Route: 048
     Dates: start: 201707
  58. ADALIMUMAB [Suspect]
     Active Substance: ADALIMUMAB
     Dosage: UNK
     Route: 058
  59. ADALIMUMAB [Suspect]
     Active Substance: ADALIMUMAB
     Dosage: UNK
  60. ADALIMUMAB [Suspect]
     Active Substance: ADALIMUMAB
     Dosage: UNK, TABLET
  61. ADALIMUMAB [Suspect]
     Active Substance: ADALIMUMAB
     Dosage: UNK
     Route: 058
  62. ADALIMUMAB [Suspect]
     Active Substance: ADALIMUMAB
     Dosage: UNK, TABLET
  63. ADALIMUMAB [Suspect]
     Active Substance: ADALIMUMAB
     Dosage: UNK
     Route: 058
  64. ALBENDAZOLE [Suspect]
     Active Substance: ALBENDAZOLE
     Indication: Deep vein thrombosis
     Dosage: UNK
     Route: 042
     Dates: start: 2021
  65. ALBENDAZOLE [Suspect]
     Active Substance: ALBENDAZOLE
     Indication: Colitis ulcerative
     Dosage: UNK
     Route: 042
     Dates: start: 2017, end: 2017
  66. ALBENDAZOLE [Suspect]
     Active Substance: ALBENDAZOLE
     Dosage: UNK
     Route: 048
  67. ALBENDAZOLE [Suspect]
     Active Substance: ALBENDAZOLE
     Dosage: UNK
     Route: 042
  68. ALBENDAZOLE [Suspect]
     Active Substance: ALBENDAZOLE
     Dosage: UNK
     Route: 048
  69. ASACOL [Suspect]
     Active Substance: MESALAMINE
     Indication: Colitis ulcerative
     Dosage: UNK
     Route: 065
  70. ASACOL [Suspect]
     Active Substance: MESALAMINE
     Dosage: 12 DOSAGE FORM, 1 DOSE PER 1 D
     Route: 065
  71. ASACOL [Suspect]
     Active Substance: MESALAMINE
     Dosage: 2.4 GRAM, 1 DOSE PER 1 D
     Route: 065
     Dates: start: 20161001
  72. ASACOL [Suspect]
     Active Substance: MESALAMINE
     Dosage: 3 GRAM, 1 DOSE PER 1 D
     Route: 065
     Dates: start: 20161001
  73. ASACOL [Suspect]
     Active Substance: MESALAMINE
     Dosage: 4.8 GRAM, 1 DOSE PER 1 D
     Route: 065
     Dates: start: 20161001
  74. ASACOL [Suspect]
     Active Substance: MESALAMINE
     Dosage: 4.8 GRAM, 1 DOSE PER 1 D
     Route: 065
  75. ASACOL [Suspect]
     Active Substance: MESALAMINE
     Dosage: 50 MILLIGRAM
     Route: 065
  76. ASACOL [Suspect]
     Active Substance: MESALAMINE
     Dosage: 50 MILLIGRAM
     Route: 065
  77. ASACOL [Suspect]
     Active Substance: MESALAMINE
     Dosage: 6 DOSAGE FORM, 2 DOSE PER 1 D
     Route: 065
  78. ASACOL [Suspect]
     Active Substance: MESALAMINE
     Dosage: 3 GRAM
     Route: 065
  79. ASACOL [Suspect]
     Active Substance: MESALAMINE
     Dosage: 6 DOSAGE FORM, 1 DOSE PER 1 D
     Route: 065
     Dates: start: 20161001
  80. ASACOL [Suspect]
     Active Substance: MESALAMINE
     Dosage: 1 DOSAGE FORM, 1 DOSE PER 1 D
     Route: 065
  81. ASACOL [Suspect]
     Active Substance: MESALAMINE
     Dosage: 3 DOSAGE FORM, 2 DOSE PER 1 D
     Route: 065
  82. ASACOL [Suspect]
     Active Substance: MESALAMINE
     Dosage: 3 DOSAGE FORM, 1 DOSE PER 12HR
     Route: 065
     Dates: start: 20161001
  83. ASACOL [Suspect]
     Active Substance: MESALAMINE
     Dosage: 1 DOSAGE FORM, 1 DOSE PER 1 D
     Route: 048
  84. ASACOL [Suspect]
     Active Substance: MESALAMINE
     Dosage: 40 MILLIGRAM, 1 DOSE PER 1 D
     Route: 065
  85. ASACOL [Suspect]
     Active Substance: MESALAMINE
     Dosage: 50 MILLIGRAM, 1 DOSE PER 1 D
     Route: 048
  86. ASACOL [Suspect]
     Active Substance: MESALAMINE
     Dosage: 6 DOSAGE FORM, 1 DOSE PER 1 D
     Route: 048
  87. ASACOL [Suspect]
     Active Substance: MESALAMINE
     Dosage: UNK
  88. ASACOL [Suspect]
     Active Substance: MESALAMINE
     Dosage: 3 GRAIN
  89. ASACOL [Suspect]
     Active Substance: MESALAMINE
     Dosage: 4.8 DOSAGE FORM,  1 EVERY 1 DAYS
  90. ASACOL [Suspect]
     Active Substance: MESALAMINE
     Dosage: 6.0 DOSAGE FORM,  2 EVERY 1 DAYS
     Dates: start: 20161001
  91. ASACOL [Suspect]
     Active Substance: MESALAMINE
     Dosage: 4.8 DOSAGE FORM,  1 EVERY 1 DAYS
     Dates: start: 20161001
  92. ASACOL [Suspect]
     Active Substance: MESALAMINE
     Dosage: 3 GRAM,  2 EVERY 1 DAYS
  93. ASACOL [Suspect]
     Active Substance: MESALAMINE
     Dosage: 1 DOSAGE FORM,  1 EVERY 1 DAYS
     Route: 048
  94. ASACOL [Suspect]
     Active Substance: MESALAMINE
     Dosage: UNK
  95. ASPIRIN [Suspect]
     Active Substance: ASPIRIN
     Indication: Product used for unknown indication
     Dosage: UNK
     Route: 065
  96. BUDESONIDE [Suspect]
     Active Substance: BUDESONIDE
     Indication: Colitis ulcerative
     Dosage: UNK
     Route: 065
  97. BUDESONIDE [Suspect]
     Active Substance: BUDESONIDE
     Dosage: 1 DOSAGE FORM, 1 DOSE PER 8W
     Route: 048
  98. BUDESONIDE [Suspect]
     Active Substance: BUDESONIDE
     Dosage: 4 DOSAGE FORM
     Route: 065
  99. BUDESONIDE [Suspect]
     Active Substance: BUDESONIDE
     Dosage: 8 DOSAGE FORM, 1 DOSE PER 1 D
     Route: 048
  100. BUDESONIDE [Suspect]
     Active Substance: BUDESONIDE
     Dosage: 8 DOSAGE FORM, 1 DOSE PER 8W
     Route: 048
     Dates: start: 201707
  101. BUDESONIDE [Suspect]
     Active Substance: BUDESONIDE
     Dosage: UNK, PER 8 WEEKS
     Route: 065
  102. BUDESONIDE [Suspect]
     Active Substance: BUDESONIDE
     Dosage: 1 DOSAGE FORM, 1 DOSE PER 1D
     Route: 048
     Dates: start: 201707
  103. BUDESONIDE [Suspect]
     Active Substance: BUDESONIDE
     Dosage: UNK, QD
     Route: 065
  104. BUDESONIDE [Suspect]
     Active Substance: BUDESONIDE
     Dosage: 1 DOSAGE FORM, QID
     Route: 048
     Dates: start: 201707
  105. BUDESONIDE [Suspect]
     Active Substance: BUDESONIDE
     Dosage: 8 DOSAGE FORM
     Route: 048
  106. BUDESONIDE [Suspect]
     Active Substance: BUDESONIDE
     Dosage: 245 DOSAGE FORM, 1 DOSE PER 1 D
     Route: 048
  107. BUDESONIDE [Suspect]
     Active Substance: BUDESONIDE
     Dosage: 212 DOSAGE FORM
     Route: 048
  108. BUDESONIDE [Suspect]
     Active Substance: BUDESONIDE
     Dosage: UNK
     Route: 065
  109. BUDESONIDE [Suspect]
     Active Substance: BUDESONIDE
     Dosage: 1 DOSAGE FORM; 1 EVERY 8 WEEKS
     Route: 048
  110. BUDESONIDE [Suspect]
     Active Substance: BUDESONIDE
     Dosage: QID
  111. BUDESONIDE [Suspect]
     Active Substance: BUDESONIDE
     Dosage: UNK
  112. BUDESONIDE [Suspect]
     Active Substance: BUDESONIDE
     Dosage: 1 EVERY 8 WEEKS
  113. BUDESONIDE [Suspect]
     Active Substance: BUDESONIDE
     Dosage: 1 EVERY 1 DAYS
  114. BUDESONIDE [Suspect]
     Active Substance: BUDESONIDE
     Dosage: 1 DOSAGE FORM, QD
     Route: 048
     Dates: start: 201707
  115. BUDESONIDE [Suspect]
     Active Substance: BUDESONIDE
     Dosage: 8 DOSAGE FORM, Q8WK
     Route: 048
     Dates: start: 200707
  116. BUDESONIDE [Suspect]
     Active Substance: BUDESONIDE
     Dosage: UNK
  117. BUDESONIDE [Suspect]
     Active Substance: BUDESONIDE
     Dosage: UNK UNK, 1 DOSE PER 8W
  118. BUDESONIDE [Suspect]
     Active Substance: BUDESONIDE
     Dosage: UNK UNK, 1 DOSE PER 1 D
  119. CANDESARTAN [Suspect]
     Active Substance: CANDESARTAN
     Indication: Product used for unknown indication
     Dosage: UNK
     Route: 048
     Dates: start: 20230412
  120. CANDESARTAN [Suspect]
     Active Substance: CANDESARTAN
     Indication: Colitis ulcerative
     Dosage: UNK
     Route: 048
     Dates: start: 20230412
  121. CANDESARTAN [Suspect]
     Active Substance: CANDESARTAN
     Dosage: UNK
     Route: 048
     Dates: start: 20230412
  122. CANDESARTAN [Suspect]
     Active Substance: CANDESARTAN
     Dosage: UNK
     Route: 048
     Dates: start: 20230412
  123. AZD-1222 [Suspect]
     Active Substance: AZD-1222
     Indication: COVID-19 immunisation
     Dosage: UNK
     Route: 065
     Dates: start: 20190319
  124. AZD-1222 [Suspect]
     Active Substance: AZD-1222
     Indication: Adverse drug reaction
     Dosage: 1 MILLILITER
     Route: 065
  125. AZD-1222 [Suspect]
     Active Substance: AZD-1222
     Dosage: UNK
     Route: 065
     Dates: start: 2019, end: 2019
  126. AZD-1222 [Suspect]
     Active Substance: AZD-1222
     Dosage: UNK
     Route: 065
     Dates: start: 20210713, end: 20210713
  127. AZD-1222 [Suspect]
     Active Substance: AZD-1222
     Dosage: UNK
     Route: 065
     Dates: start: 20210130, end: 20210130
  128. AZD-1222 [Suspect]
     Active Substance: AZD-1222
     Dosage: UNK
     Route: 065
     Dates: start: 20210508, end: 20210508
  129. AZD-1222 [Suspect]
     Active Substance: AZD-1222
     Dosage: UNK
     Route: 065
     Dates: start: 20210204, end: 20210204
  130. AZD-1222 [Suspect]
     Active Substance: AZD-1222
     Dosage: UNK
     Route: 065
     Dates: start: 20210521, end: 20210521
  131. AZD-1222 [Suspect]
     Active Substance: AZD-1222
     Dosage: UNK
     Route: 065
     Dates: start: 20210318, end: 20210318
  132. AZD-1222 [Suspect]
     Active Substance: AZD-1222
     Dosage: UNK
     Route: 065
     Dates: start: 20210416, end: 20210416
  133. AZD-1222 [Suspect]
     Active Substance: AZD-1222
     Dosage: UNK
     Route: 065
     Dates: start: 20210215, end: 20210215
  134. AZD-1222 [Suspect]
     Active Substance: AZD-1222
     Dosage: UNK
     Route: 065
     Dates: start: 20210319, end: 20210319
  135. AZD-1222 [Suspect]
     Active Substance: AZD-1222
     Dosage: 0.5 MILLILITER
     Route: 065
     Dates: start: 20210204, end: 20210204
  136. AZD-1222 [Suspect]
     Active Substance: AZD-1222
     Dosage: UNK
     Route: 065
     Dates: start: 20210423, end: 20210423
  137. AZD-1222 [Suspect]
     Active Substance: AZD-1222
     Dosage: 1 MILLILITRE
  138. AZD-1222 [Suspect]
     Active Substance: AZD-1222
     Dosage: 0.5 MILLILITRE
     Dates: start: 20210204, end: 20210204
  139. CHOLECALCIFEROL [Suspect]
     Active Substance: CHOLECALCIFEROL
     Indication: Product used for unknown indication
     Dosage: 100 MILLIGRAM
     Route: 065
  140. CHOLECALCIFEROL [Suspect]
     Active Substance: CHOLECALCIFEROL
     Dosage: 100 MILLIGRAM
  141. CHOLECALCIFEROL [Suspect]
     Active Substance: CHOLECALCIFEROL
     Dosage: 100 MILLIGRAM
  142. CHOLECALCIFEROL [Suspect]
     Active Substance: CHOLECALCIFEROL
     Dosage: 100 MILLIGRAM
  143. COMIRNATY (TOZINAMERAN) [Suspect]
     Active Substance: TOZINAMERAN
     Indication: Product used for unknown indication
     Dosage: UNK
     Route: 065
  144. COMIRNATY (TOZINAMERAN) [Suspect]
     Active Substance: TOZINAMERAN
     Dosage: UNK
  145. COMIRNATY (TOZINAMERAN) [Suspect]
     Active Substance: TOZINAMERAN
     Dosage: UNK
  146. COMIRNATY (TOZINAMERAN) [Suspect]
     Active Substance: TOZINAMERAN
     Dosage: UNK
     Route: 048
  147. COMIRNATY (TOZINAMERAN) [Suspect]
     Active Substance: TOZINAMERAN
     Dosage: UNK
     Route: 048
  148. COMIRNATY (TOZINAMERAN) [Suspect]
     Active Substance: TOZINAMERAN
     Dosage: UNK
     Route: 048
  149. COMIRNATY (TOZINAMERAN) [Suspect]
     Active Substance: TOZINAMERAN
     Dosage: UNK
     Route: 048
  150. CORTIFOAM [Suspect]
     Active Substance: HYDROCORTISONE ACETATE
     Indication: Deep vein thrombosis
     Dosage: UNK
     Route: 048
  151. CORTIFOAM [Suspect]
     Active Substance: HYDROCORTISONE ACETATE
     Indication: Colitis ulcerative
     Dosage: UNK
     Route: 065
  152. CORTIFOAM [Suspect]
     Active Substance: HYDROCORTISONE ACETATE
     Dosage: 1 DOSAGE FORM, 1 DOSE PER 1D
     Route: 048
     Dates: start: 201707
  153. CORTIFOAM [Suspect]
     Active Substance: HYDROCORTISONE ACETATE
     Dosage: 1 DOSAGE FORM, 1 DOSE PER 1D
     Route: 048
  154. CORTIFOAM [Suspect]
     Active Substance: HYDROCORTISONE ACETATE
     Dosage: 8 DOSAGE FORM, 1 DOSE PER 8W
     Route: 048
     Dates: start: 201707
  155. CORTIFOAM [Suspect]
     Active Substance: HYDROCORTISONE ACETATE
     Dosage: UNK, PER 8 WEEKS
     Route: 065
  156. CORTIFOAM [Suspect]
     Active Substance: HYDROCORTISONE ACETATE
     Dosage: UNK, QD
     Route: 065
  157. CORTIFOAM [Suspect]
     Active Substance: HYDROCORTISONE ACETATE
     Dosage: 8 DOSAGE FORM
     Route: 048
  158. CORTIFOAM [Suspect]
     Active Substance: HYDROCORTISONE ACETATE
     Dosage: UNK
  159. CORTIFOAM [Suspect]
     Active Substance: HYDROCORTISONE ACETATE
     Dosage: UNK
     Route: 048
  160. CORTIFOAM [Suspect]
     Active Substance: HYDROCORTISONE ACETATE
     Dosage: 1 DOSAGE FORM, 1 EVERY 1 DAYS
  161. CORTIFOAM [Suspect]
     Active Substance: HYDROCORTISONE ACETATE
     Dosage: UNK
  162. CORTIFOAM [Suspect]
     Active Substance: HYDROCORTISONE ACETATE
     Dosage: 8 DOSAGE FORM; 1 EVERY 8 WEEKS
  163. CORTIFOAM [Suspect]
     Active Substance: HYDROCORTISONE ACETATE
     Dosage: 8 DOSAGE FORM
     Route: 048
  164. CORTIFOAM [Suspect]
     Active Substance: HYDROCORTISONE ACETATE
     Dosage: 8 DOSAGE FORM, Q8WK
     Route: 048
     Dates: start: 201707
  165. CORTIFOAM [Suspect]
     Active Substance: HYDROCORTISONE ACETATE
     Dosage: UNK
     Route: 048
  166. CORTIFOAM [Suspect]
     Active Substance: HYDROCORTISONE ACETATE
     Dosage: UNK
  167. CORTIFOAM [Suspect]
     Active Substance: HYDROCORTISONE ACETATE
     Dosage: UNK UNK, 1 DOSE PER 8W
  168. CORTIFOAM [Suspect]
     Active Substance: HYDROCORTISONE ACETATE
     Dosage: UNK, 1 DOSE PER 1D
  169. BUDESONIDE [Suspect]
     Active Substance: BUDESONIDE
     Indication: Colitis ulcerative
     Dosage: UNK
     Route: 048
  170. BUDESONIDE [Suspect]
     Active Substance: BUDESONIDE
     Dosage: UNK
     Route: 065
  171. BUDESONIDE [Suspect]
     Active Substance: BUDESONIDE
     Dosage: 1 DOSAGE FORM, QD
     Route: 048
  172. BUDESONIDE [Suspect]
     Active Substance: BUDESONIDE
     Dosage: 1 DOSAGE FORM, QD
     Route: 065
  173. BUDESONIDE [Suspect]
     Active Substance: BUDESONIDE
     Dosage: 1 DOSAGE FORM, QD
     Route: 065
  174. BUDESONIDE [Suspect]
     Active Substance: BUDESONIDE
     Dosage: 8 DOSAGE FORM, PER 8 WEEKS
     Route: 048
     Dates: start: 201707
  175. BUDESONIDE [Suspect]
     Active Substance: BUDESONIDE
     Dosage: 8 DOSAGE FORM,PER 8 WEEKS
     Route: 065
  176. BUDESONIDE [Suspect]
     Active Substance: BUDESONIDE
     Dosage: UNK, PER 8 WEEKS
     Route: 048
  177. BUDESONIDE [Suspect]
     Active Substance: BUDESONIDE
     Dosage: UNK, PER 8 WEEKS
     Route: 065
  178. BUDESONIDE [Suspect]
     Active Substance: BUDESONIDE
     Dosage: 8 DOSAGE FORM
     Route: 048
  179. BUDESONIDE [Suspect]
     Active Substance: BUDESONIDE
     Dosage: 8 DOSAGE FORM, QD
     Route: 048
  180. CORTISONE (HYDROCORTISONE) [Suspect]
     Active Substance: HYDROCORTISONE
     Indication: Crohn^s disease
     Dosage: UNK
     Route: 042
  181. CORTISONE (HYDROCORTISONE) [Suspect]
     Active Substance: HYDROCORTISONE
     Indication: Colitis ulcerative
     Dosage: UNK, 1 DOSE PER 1D
     Route: 065
  182. CORTISONE (HYDROCORTISONE) [Suspect]
     Active Substance: HYDROCORTISONE
     Dosage: UNK
     Route: 065
  183. CORTISONE (HYDROCORTISONE) [Suspect]
     Active Substance: HYDROCORTISONE
     Dosage: 1 DOSAGE FORM, QD
     Route: 048
  184. CORTISONE (HYDROCORTISONE) [Suspect]
     Active Substance: HYDROCORTISONE
     Dosage: 8 DOSAGE FORM, QD
     Route: 048
  185. CORTISONE (HYDROCORTISONE) [Suspect]
     Active Substance: HYDROCORTISONE
     Dosage: UNK, PER 6 WEEKS
     Route: 065
  186. CORTISONE (HYDROCORTISONE) [Suspect]
     Active Substance: HYDROCORTISONE
     Dosage: 8 DOSAGE FORM, PER 8 WEEKS
     Route: 048
  187. CORTISONE (HYDROCORTISONE) [Suspect]
     Active Substance: HYDROCORTISONE
     Dosage: UNK, PER 8 WEEKS
     Route: 048
  188. CORTISONE (HYDROCORTISONE) [Suspect]
     Active Substance: HYDROCORTISONE
     Dosage: UNK, PER 8 WEEKS
     Route: 065
  189. CORTISONE (HYDROCORTISONE) [Suspect]
     Active Substance: HYDROCORTISONE
     Dosage: 8 MILLIGRAM, PER WEEK
     Route: 048
  190. CORTISONE (HYDROCORTISONE) [Suspect]
     Active Substance: HYDROCORTISONE
     Dosage: 6 MILLIGRAM, PER WEEK
     Route: 048
  191. CORTISONE (HYDROCORTISONE) [Suspect]
     Active Substance: HYDROCORTISONE
     Dosage: UNK
     Route: 065
  192. DAPAGLIFLOZIN [Suspect]
     Active Substance: DAPAGLIFLOZIN
     Indication: Ill-defined disorder
     Dosage: UNK
     Route: 065
  193. DAPAGLIFLOZIN [Suspect]
     Active Substance: DAPAGLIFLOZIN
     Indication: Cardiac failure chronic
     Dosage: UNK
  194. DAPAGLIFLOZIN [Suspect]
     Active Substance: DAPAGLIFLOZIN
     Dosage: UNK
  195. LISDEXAMFETAMINE DIMESYLATE [Suspect]
     Active Substance: LISDEXAMFETAMINE DIMESYLATE
     Indication: Product used for unknown indication
     Dosage: UNK
     Route: 065
  196. LISDEXAMFETAMINE DIMESYLATE [Suspect]
     Active Substance: LISDEXAMFETAMINE DIMESYLATE
     Dosage: UNK
  197. LISDEXAMFETAMINE DIMESYLATE [Suspect]
     Active Substance: LISDEXAMFETAMINE DIMESYLATE
     Dosage: UNK
  198. LISDEXAMFETAMINE DIMESYLATE [Suspect]
     Active Substance: LISDEXAMFETAMINE DIMESYLATE
     Dosage: UNK
  199. LISDEXAMFETAMINE DIMESYLATE [Suspect]
     Active Substance: LISDEXAMFETAMINE DIMESYLATE
     Dosage: UNK
  200. LISDEXAMFETAMINE DIMESYLATE [Suspect]
     Active Substance: LISDEXAMFETAMINE DIMESYLATE
     Dosage: UNK
  201. LISDEXAMFETAMINE DIMESYLATE [Suspect]
     Active Substance: LISDEXAMFETAMINE DIMESYLATE
     Dosage: UNK
  202. ENTYVIO [Suspect]
     Active Substance: VEDOLIZUMAB
     Indication: Colitis ulcerative
     Dosage: UNK
     Route: 042
  203. ENTYVIO [Suspect]
     Active Substance: VEDOLIZUMAB
     Indication: Deep vein thrombosis
     Dosage: UNK
     Route: 048
  204. ENTYVIO [Suspect]
     Active Substance: VEDOLIZUMAB
     Dosage: 50 MILLIGRAM
     Route: 065
  205. ENTYVIO [Suspect]
     Active Substance: VEDOLIZUMAB
     Dosage: 1 DOSAGE FORM,  1 EVERY 1 DAYS
     Route: 048
  206. ENTYVIO [Suspect]
     Active Substance: VEDOLIZUMAB
     Dosage: 8 DOSAGE FORM;1 EVERY 8 WEEKS
     Route: 048
  207. ENTYVIO [Suspect]
     Active Substance: VEDOLIZUMAB
     Dosage: UNK
     Route: 065
  208. ENTYVIO [Suspect]
     Active Substance: VEDOLIZUMAB
     Dosage: UNK, QD
     Route: 065
  209. ENTYVIO [Suspect]
     Active Substance: VEDOLIZUMAB
     Dosage: UNK
     Route: 065
  210. ENTYVIO [Suspect]
     Active Substance: VEDOLIZUMAB
     Dosage: UNK
     Route: 042
  211. ENTYVIO [Suspect]
     Active Substance: VEDOLIZUMAB
     Dosage: UNK(DOSE FORM:200)
     Route: 042
     Dates: start: 2017, end: 2017
  212. ENTYVIO [Suspect]
     Active Substance: VEDOLIZUMAB
     Dosage: UNK
     Route: 042
  213. ENTYVIO [Suspect]
     Active Substance: VEDOLIZUMAB
     Dosage: UNK
  214. ENTYVIO [Suspect]
     Active Substance: VEDOLIZUMAB
     Dosage: UNK
     Route: 048
  215. ENTYVIO [Suspect]
     Active Substance: VEDOLIZUMAB
     Dosage: 1 EVERY 1 DAYS
  216. ENTYVIO [Suspect]
     Active Substance: VEDOLIZUMAB
     Dosage: 8 DOSAGE FORM;1 EVERY 8 WEEKS
     Route: 048
  217. ENTYVIO [Suspect]
     Active Substance: VEDOLIZUMAB
     Dosage: 8 DOSAGE FORM
     Route: 042
  218. EPINEPHRINE HYDROCHLORIDE [Suspect]
     Active Substance: EPINEPHRINE HYDROCHLORIDE
     Indication: Product used for unknown indication
     Dosage: UNK
     Route: 065
  219. EPINEPHRINE HYDROCHLORIDE [Suspect]
     Active Substance: EPINEPHRINE HYDROCHLORIDE
     Dosage: UNK
  220. EPINEPHRINE HYDROCHLORIDE [Suspect]
     Active Substance: EPINEPHRINE HYDROCHLORIDE
     Dosage: UNK
  221. ESCITALOPRAM [Suspect]
     Active Substance: ESCITALOPRAM OXALATE
     Indication: Product used for unknown indication
     Dosage: 10 MILLIGRAM
     Route: 065
  222. ESCITALOPRAM [Suspect]
     Active Substance: ESCITALOPRAM OXALATE
     Dosage: 10 MILLIGRAM
     Route: 065
  223. ESCITALOPRAM [Suspect]
     Active Substance: ESCITALOPRAM OXALATE
     Dosage: 10 MILLIGRAM
  224. ESCITALOPRAM [Suspect]
     Active Substance: ESCITALOPRAM OXALATE
     Dosage: 10 MILLIGRAM
  225. ESOMEPRAZOLE [Suspect]
     Active Substance: ESOMEPRAZOLE
     Indication: Gastritis
     Dosage: UNK
     Route: 065
  226. ESOMEPRAZOLE [Suspect]
     Active Substance: ESOMEPRAZOLE
     Dosage: UNK
  227. ESOMEPRAZOLE [Suspect]
     Active Substance: ESOMEPRAZOLE
     Dosage: UNK
  228. ESOMEPRAZOLE [Suspect]
     Active Substance: ESOMEPRAZOLE
     Dosage: UNK
  229. ESOMEPRAZOLE [Suspect]
     Active Substance: ESOMEPRAZOLE
     Dosage: UNK
  230. ESOMEPRAZOLE [Suspect]
     Active Substance: ESOMEPRAZOLE
     Dosage: UNK
  231. FELODIPINE [Suspect]
     Active Substance: FELODIPINE
     Indication: Hypertension
     Dosage: 3 MILLIGRAM
     Route: 048
  232. FELODIPINE [Suspect]
     Active Substance: FELODIPINE
     Dosage: 5 MILLIGRAM, DAILY (2.5 MILLIGRAM, 2 DOSE PER 1 D)
     Route: 048
  233. FELODIPINE [Suspect]
     Active Substance: FELODIPINE
     Dosage: 2.5 MILLIGRAM, QD
     Route: 048
  234. FUROSEMIDE [Suspect]
     Active Substance: FUROSEMIDE
     Indication: Product used for unknown indication
     Dosage: 20 MILLIGRAM
     Route: 065
  235. FUROSEMIDE [Suspect]
     Active Substance: FUROSEMIDE
     Dosage: 20 MILLIGRAM
     Route: 065
  236. FUROSEMIDE [Suspect]
     Active Substance: FUROSEMIDE
     Dosage: 20 MILLIGRAM
  237. FUROSEMIDE [Suspect]
     Active Substance: FUROSEMIDE
     Dosage: 20 MILLIGRAM
  238. GABAPENTIN [Suspect]
     Active Substance: GABAPENTIN
     Indication: Product used for unknown indication
     Dosage: 300 MILLIGRAM
     Route: 065
  239. GABAPENTIN [Suspect]
     Active Substance: GABAPENTIN
     Dosage: 900 MILLIGRAM, DAILY (300 MILLIGRAM, 3 DOSE PER 1 D  )
     Route: 065
  240. GABAPENTIN [Suspect]
     Active Substance: GABAPENTIN
     Dosage: 900 MILLIGRAM, DAILY (300 MILLIGRAM, 3 DOSE PER 1 D  )
  241. GABAPENTIN [Suspect]
     Active Substance: GABAPENTIN
     Dosage: 900 MILLIGRAM, DAILY (300 MILLIGRAM, 3 DOSE PER 1 D  )
  242. GABAPENTIN [Suspect]
     Active Substance: GABAPENTIN
     Dosage: 900 MILLIGRAM, DAILY (300 MILLIGRAM, 3 DOSE PER 1 D  )
  243. GABAPENTIN [Suspect]
     Active Substance: GABAPENTIN
     Dosage: 300 MILLIGRAM
  244. HYDROCORTISONE [Suspect]
     Active Substance: HYDROCORTISONE
     Indication: Colitis ulcerative
     Dosage: UNK ORAL
     Route: 048
  245. HYDROCORTISONE [Suspect]
     Active Substance: HYDROCORTISONE
     Dosage: UNK
     Route: 065
  246. HYDROCORTISONE [Suspect]
     Active Substance: HYDROCORTISONE
     Dosage: 1 DOSAGE FORM, 1 DOSE PER 1D
     Route: 048
     Dates: start: 201807
  247. HYDROCORTISONE [Suspect]
     Active Substance: HYDROCORTISONE
     Dosage: 3 DOSAGE FORM;  2 EVERY 1 DAYS
     Route: 065
  248. HYDROCORTISONE [Suspect]
     Active Substance: HYDROCORTISONE
     Dosage: 4 DOSAGE FORM
     Route: 065
  249. HYDROCORTISONE [Suspect]
     Active Substance: HYDROCORTISONE
     Dosage: 8 DOSAGE FORM, 1 DOSE PER 8W
     Route: 048
     Dates: start: 201807
  250. HYDROCORTISONE [Suspect]
     Active Substance: HYDROCORTISONE
     Dosage: UNK, PER 8 WEEKS
     Route: 065
  251. HYDROCORTISONE [Suspect]
     Active Substance: HYDROCORTISONE
     Dosage: 8 DOSAGE FORM, 1 EVERY 1 DAYS
     Route: 048
  252. HYDROCORTISONE [Suspect]
     Active Substance: HYDROCORTISONE
     Dosage: 3 DOSAGE FORM;  2 EVERY 1 DAYS
     Route: 048
  253. HYDROCORTISONE [Suspect]
     Active Substance: HYDROCORTISONE
     Dosage: 8 DOSAGE FORM, 1 EVERY 1 DAYS
     Route: 048
  254. HYDROCORTISONE [Suspect]
     Active Substance: HYDROCORTISONE
     Dosage: 1 DOSAGE FORM  1 EVERY 1 DAYS
     Route: 048
  255. HYDROCORTISONE [Suspect]
     Active Substance: HYDROCORTISONE
     Dosage: 1 DOSAGE FORM  1 EVERY 1 DAYS
     Route: 048
  256. HYDROCORTISONE [Suspect]
     Active Substance: HYDROCORTISONE
     Dosage: UNK
  257. HYDROCORTISONE [Suspect]
     Active Substance: HYDROCORTISONE
     Dosage: 1 DOSAGE FORM, QD
     Route: 048
     Dates: start: 201807
  258. HYDROCORTISONE [Suspect]
     Active Substance: HYDROCORTISONE
     Dosage: UNK ORAL
     Route: 048
  259. HYDROCORTISONE [Suspect]
     Active Substance: HYDROCORTISONE
     Dosage: UNK
  260. HYDROCORTISONE [Suspect]
     Active Substance: HYDROCORTISONE
     Dosage: UNK, 1 DOSE PER 8W
  261. HYDROCORTISONE [Suspect]
     Active Substance: HYDROCORTISONE
     Dosage: 8 DOSAGE FORM, 1 EVERY 1 DAYS
     Route: 048
  262. HYDROCORTISONE [Suspect]
     Active Substance: HYDROCORTISONE
     Dosage: 8 DOSAGE FORM, 1 EVERY 1 DAYS
     Route: 048
  263. HYDROCORTISONE [Suspect]
     Active Substance: HYDROCORTISONE
     Dosage: 4 DOSAGE FORM
  264. HYDROCORTISONE [Suspect]
     Active Substance: HYDROCORTISONE
     Dosage: 8 DOSAGE FORM; 1 EVERY 8 WEEKS
     Route: 048
  265. HYDROCORTISONE [Suspect]
     Active Substance: HYDROCORTISONE
     Dosage: 8 DOSAGE FORM; 1 EVERY 8 WEEKS
     Route: 048
  266. HYDROCORTISONE [Suspect]
     Active Substance: HYDROCORTISONE
     Dosage: 8 DOSAGE FORM; 1 EVERY 8 WEEKS
     Route: 048
  267. HYDROCORTISONE [Suspect]
     Active Substance: HYDROCORTISONE
     Dosage: 8 DOSAGE FORM; 1 EVERY 8 WEEKS
     Route: 048
  268. HYDROCORTISONE [Suspect]
     Active Substance: HYDROCORTISONE
     Dosage: 1 DOSAGE FORM  1 EVERY 1 DAYS
     Route: 048
  269. HYDROCORTISONE [Suspect]
     Active Substance: HYDROCORTISONE
     Dosage: 1 DOSAGE FORM  1 EVERY 1 DAYS
     Route: 048
  270. HYDROCORTISONE [Suspect]
     Active Substance: HYDROCORTISONE
     Dosage: 1 EVERY 8 WEEKS
  271. HYDROCORTISONE [Suspect]
     Active Substance: HYDROCORTISONE
     Dosage: 1 EVERY 8 WEEKS
  272. HYDROCORTISONE [Suspect]
     Active Substance: HYDROCORTISONE
     Dosage: UNK
  273. HYDROCORTISONE [Suspect]
     Active Substance: HYDROCORTISONE
     Dosage: UNK
  274. HYDROCORTISONE [Suspect]
     Active Substance: HYDROCORTISONE
     Dosage: 1 DOSAGE FORM, QD
     Route: 048
     Dates: start: 201807
  275. HYDROCORTISONE [Suspect]
     Active Substance: HYDROCORTISONE
     Dosage: 1 DOSAGE FORM, QD
     Route: 048
     Dates: start: 201807
  276. HYDROCORTISONE [Suspect]
     Active Substance: HYDROCORTISONE
     Dosage: 1 DOSAGE FORM, QD
     Route: 048
     Dates: start: 201807
  277. HUMIRA [Suspect]
     Active Substance: ADALIMUMAB
     Indication: Deep vein thrombosis
     Dosage: UNK
     Route: 065
  278. HUMIRA [Suspect]
     Active Substance: ADALIMUMAB
     Indication: Crohn^s disease
     Dosage: UNK
     Route: 065
  279. HUMIRA [Suspect]
     Active Substance: ADALIMUMAB
     Indication: Colitis ulcerative
     Dosage: 8 DOSAGE FORM
     Route: 065
  280. HUMIRA [Suspect]
     Active Substance: ADALIMUMAB
     Dosage: UNK, PER 8 WEEKS
     Route: 065
  281. HUMIRA [Suspect]
     Active Substance: ADALIMUMAB
     Dosage: 8 DOSAGE FORM
     Route: 048
     Dates: start: 201707
  282. HUMIRA [Suspect]
     Active Substance: ADALIMUMAB
     Dosage: 8 DOSAGE FORM
     Route: 058
  283. HUMIRA [Suspect]
     Active Substance: ADALIMUMAB
     Dosage: UNK
  284. HUMIRA [Suspect]
     Active Substance: ADALIMUMAB
     Dosage: UNK
  285. HUMIRA [Suspect]
     Active Substance: ADALIMUMAB
     Dosage: UNK, 1 DOSE PER 8W
  286. HUMIRA [Suspect]
     Active Substance: ADALIMUMAB
     Dosage: 38 DOSAGE FORM
     Route: 058
  287. INFLECTRA [Suspect]
     Active Substance: INFLIXIMAB-DYYB
     Indication: Crohn^s disease
     Dosage: UNK
     Route: 065
  288. INFLECTRA [Suspect]
     Active Substance: INFLIXIMAB-DYYB
     Indication: Colitis ulcerative
     Dosage: UNK
     Route: 048
  289. INFLECTRA [Suspect]
     Active Substance: INFLIXIMAB-DYYB
     Dosage: UNK
     Route: 042
  290. INFLECTRA [Suspect]
     Active Substance: INFLIXIMAB-DYYB
     Dosage: UNK
     Route: 065
  291. INFLECTRA [Suspect]
     Active Substance: INFLIXIMAB-DYYB
     Dosage: UNK
     Route: 048
  292. INFLECTRA [Suspect]
     Active Substance: INFLIXIMAB-DYYB
     Dosage: 5 MILLIGRAM/KILOGRAM
     Route: 042
  293. INFLECTRA [Suspect]
     Active Substance: INFLIXIMAB-DYYB
     Dosage: 1 EVERY 6 WEEKS
     Route: 065
  294. INFLECTRA [Suspect]
     Active Substance: INFLIXIMAB-DYYB
     Dosage: 1 EVERY 8 WEEKS
     Route: 065
  295. INFLECTRA [Suspect]
     Active Substance: INFLIXIMAB-DYYB
     Dosage: 5 MG/KG 1 EVERY 8 WEEKS
     Route: 065
  296. INFLIXIMAB [Suspect]
     Active Substance: INFLIXIMAB
     Indication: Crohn^s disease
     Dosage: UNK
     Route: 042
     Dates: start: 201709
  297. INFLIXIMAB [Suspect]
     Active Substance: INFLIXIMAB
     Indication: Colitis ulcerative
     Dosage: UNK
     Route: 042
  298. INFLIXIMAB [Suspect]
     Active Substance: INFLIXIMAB
     Dosage: UNK, PER 6 WEEKS
     Route: 042
  299. INFLIXIMAB [Suspect]
     Active Substance: INFLIXIMAB
     Dosage: 5 MILLIGRAM/KILOGRAM
     Route: 042
  300. INFLIXIMAB [Suspect]
     Active Substance: INFLIXIMAB
     Dosage: 5 MILLIGRAM/KILOGRAM, 1 DOSE PER 8W
     Route: 042
     Dates: start: 20170119
  301. INFLIXIMAB [Suspect]
     Active Substance: INFLIXIMAB
     Dosage: 5 MILLIGRAM/KILOGRAM, 1 DOSE PER 8W
     Route: 065
  302. INFLIXIMAB [Suspect]
     Active Substance: INFLIXIMAB
     Dosage: 7 MILLIGRAM/KILOGRAM, 1 DOSE PER 8W
     Route: 042
  303. INFLIXIMAB [Suspect]
     Active Substance: INFLIXIMAB
     Dosage: 7 MILLIGRAM/KILOGRAM, 1 DOSE PER 8W
     Route: 042
  304. INFLIXIMAB [Suspect]
     Active Substance: INFLIXIMAB
     Dosage: UNK, PER 2 WEEKS
     Route: 042
  305. INFLIXIMAB [Suspect]
     Active Substance: INFLIXIMAB
     Dosage: UNK, 1 DOSE PER 8W
     Route: 042
     Dates: start: 20170101, end: 20170901
  306. INFLIXIMAB [Suspect]
     Active Substance: INFLIXIMAB
     Dosage: UNK, PER 2 WEEKS
     Route: 042
  307. INFLIXIMAB [Suspect]
     Active Substance: INFLIXIMAB
     Dosage: UNK, , PER 8 WEEKS
     Route: 042
  308. INFLIXIMAB [Suspect]
     Active Substance: INFLIXIMAB
     Dosage: 5 MILLIGRAM/KILOGRAM, Q8WK
     Route: 042
     Dates: start: 20170101, end: 20170901
  309. INFLIXIMAB [Suspect]
     Active Substance: INFLIXIMAB
     Dosage: UNK, , PER 8 WEEKS
     Route: 042
  310. INFLIXIMAB [Suspect]
     Active Substance: INFLIXIMAB
     Dosage: 120 MILLIGRAM, 1 DOSE PER 8W
     Route: 042
  311. INFLIXIMAB [Suspect]
     Active Substance: INFLIXIMAB
     Dosage: 8 DOSAGE FORM, 1 DOSE PER 8W
     Route: 042
  312. INFLIXIMAB [Suspect]
     Active Substance: INFLIXIMAB
     Dosage: 7 MG/KG; 1 EVERY 8 WEEKS
     Route: 042
  313. INFLIXIMAB [Suspect]
     Active Substance: INFLIXIMAB
     Dosage: 5 MG/KG; 1 EVERY 8 WEEKS
  314. INFLIXIMAB [Suspect]
     Active Substance: INFLIXIMAB
     Dosage: UNK
     Route: 042
  315. INFLIXIMAB [Suspect]
     Active Substance: INFLIXIMAB
     Dosage: 1 EVERY 2 WEEKS
  316. INFLIXIMAB [Suspect]
     Active Substance: INFLIXIMAB
     Dosage: 1 EVERY 6 WEEKS
     Route: 042
  317. INFLIXIMAB [Suspect]
     Active Substance: INFLIXIMAB
     Dosage: 5MG/KG: 1 EVERY 8 WEEKS
     Route: 042
  318. INFLIXIMAB [Suspect]
     Active Substance: INFLIXIMAB
     Dosage: 7 MG/KG; 1 EVERY 8 WEEKS
  319. INFLIXIMAB [Suspect]
     Active Substance: INFLIXIMAB
     Dosage: 1 EVERY 8 WEEKS
     Route: 042
  320. INFLIXIMAB [Suspect]
     Active Substance: INFLIXIMAB
     Dosage: 1 EVERY 2 WEEKS
     Route: 042
  321. INFLIXIMAB [Suspect]
     Active Substance: INFLIXIMAB
     Dosage: 1 EVERY 6 WEEKS
  322. INFLIXIMAB [Suspect]
     Active Substance: INFLIXIMAB
     Dosage: 5 MILLIGRAM/KILOGRAM, Q8WK
     Route: 042
     Dates: start: 20171019
  323. INFLIXIMAB [Suspect]
     Active Substance: INFLIXIMAB
     Dosage: UNK
     Route: 042
  324. INFLIXIMAB [Suspect]
     Active Substance: INFLIXIMAB
     Dosage: UNK, 1 DOSE PER 6W
     Route: 042
  325. INFLIXIMAB [Suspect]
     Active Substance: INFLIXIMAB
     Dosage: UNK, 1 DOSE PER 2W
  326. INFLIXIMAB [Suspect]
     Active Substance: INFLIXIMAB
     Dosage: UNK, 1 DOSE PER 2W
     Route: 042
  327. INFLIXIMAB [Suspect]
     Active Substance: INFLIXIMAB
     Dosage: UNK, 1 DOSE PER 8W
     Route: 042
  328. INFLIXIMAB [Suspect]
     Active Substance: INFLIXIMAB
     Dosage: UNK, 1 DOSE PER 6W
  329. INFLIXIMAB [Suspect]
     Active Substance: INFLIXIMAB
     Dosage: 7 MG/KG; 1 EVERY 8 WEEKS
     Route: 042
  330. INFLIXIMAB [Suspect]
     Active Substance: INFLIXIMAB
     Dosage: 7 MG/KG; 1 EVERY 8 WEEKS
     Route: 042
  331. INFLIXIMAB [Suspect]
     Active Substance: INFLIXIMAB
     Dosage: 7 MG/KG; 1 EVERY 8 WEEKS
     Route: 042
  332. INFLIXIMAB [Suspect]
     Active Substance: INFLIXIMAB
     Dosage: 7 MG/KG; 1 EVERY 8 WEEKS
     Route: 042
  333. INFLIXIMAB [Suspect]
     Active Substance: INFLIXIMAB
     Dosage: 5 MG/KG; 1 EVERY 8 WEEKS
  334. INFLIXIMAB [Suspect]
     Active Substance: INFLIXIMAB
     Dosage: 5 MG/KG; 1 EVERY 8 WEEKS
  335. INFLIXIMAB [Suspect]
     Active Substance: INFLIXIMAB
     Dosage: UNK
     Route: 042
  336. INFLIXIMAB [Suspect]
     Active Substance: INFLIXIMAB
     Dosage: UNK
     Route: 042
  337. INFLIXIMAB [Suspect]
     Active Substance: INFLIXIMAB
     Dosage: UNK
     Route: 042
  338. INFLIXIMAB [Suspect]
     Active Substance: INFLIXIMAB
     Dosage: UNK
     Route: 042
  339. INFLIXIMAB [Suspect]
     Active Substance: INFLIXIMAB
     Dosage: 1 EVERY 2 WEEKS
  340. INFLIXIMAB [Suspect]
     Active Substance: INFLIXIMAB
     Dosage: 1 EVERY 2 WEEKS
  341. INFLIXIMAB [Suspect]
     Active Substance: INFLIXIMAB
     Dosage: 1 EVERY 6 WEEKS
     Route: 042
  342. INFLIXIMAB [Suspect]
     Active Substance: INFLIXIMAB
     Dosage: 1 EVERY 6 WEEKS
     Route: 042
  343. INFLIXIMAB [Suspect]
     Active Substance: INFLIXIMAB
     Dosage: 1 EVERY 6 WEEKS
     Route: 042
  344. INFLIXIMAB [Suspect]
     Active Substance: INFLIXIMAB
     Dosage: 1 EVERY 6 WEEKS
     Route: 042
  345. INFLIXIMAB [Suspect]
     Active Substance: INFLIXIMAB
     Dosage: 5MG/KG: 1 EVERY 8 WEEKS
     Route: 042
  346. INFLIXIMAB [Suspect]
     Active Substance: INFLIXIMAB
     Dosage: 5MG/KG: 1 EVERY 8 WEEKS
     Route: 042
  347. INFLIXIMAB [Suspect]
     Active Substance: INFLIXIMAB
     Dosage: 5MG/KG: 1 EVERY 8 WEEKS
     Route: 042
  348. INFLIXIMAB [Suspect]
     Active Substance: INFLIXIMAB
     Dosage: 5MG/KG: 1 EVERY 8 WEEKS
     Route: 042
  349. INFLIXIMAB [Suspect]
     Active Substance: INFLIXIMAB
     Dosage: 7 MG/KG; 1 EVERY 8 WEEKS
  350. INFLIXIMAB [Suspect]
     Active Substance: INFLIXIMAB
     Dosage: 7 MG/KG; 1 EVERY 8 WEEKS
  351. INFLIXIMAB [Suspect]
     Active Substance: INFLIXIMAB
     Dosage: 1 EVERY 8 WEEKS
     Route: 042
  352. INFLIXIMAB [Suspect]
     Active Substance: INFLIXIMAB
     Dosage: 1 EVERY 8 WEEKS
     Route: 042
  353. INFLIXIMAB [Suspect]
     Active Substance: INFLIXIMAB
     Dosage: 1 EVERY 8 WEEKS
     Route: 042
  354. INFLIXIMAB [Suspect]
     Active Substance: INFLIXIMAB
     Dosage: 1 EVERY 8 WEEKS
     Route: 042
  355. INFLIXIMAB [Suspect]
     Active Substance: INFLIXIMAB
     Dosage: 1 EVERY 2 WEEKS
     Route: 042
  356. INFLIXIMAB [Suspect]
     Active Substance: INFLIXIMAB
     Dosage: 1 EVERY 2 WEEKS
     Route: 042
  357. INFLIXIMAB [Suspect]
     Active Substance: INFLIXIMAB
     Dosage: 1 EVERY 2 WEEKS
     Route: 042
  358. INFLIXIMAB [Suspect]
     Active Substance: INFLIXIMAB
     Dosage: 1 EVERY 2 WEEKS
     Route: 042
  359. INFLIXIMAB [Suspect]
     Active Substance: INFLIXIMAB
     Dosage: 1 EVERY 6 WEEKS
  360. INFLIXIMAB [Suspect]
     Active Substance: INFLIXIMAB
     Dosage: 1 EVERY 6 WEEKS
  361. INFLIXIMAB [Suspect]
     Active Substance: INFLIXIMAB
     Dosage: 5 MILLIGRAM/KILOGRAM, Q8WK
     Route: 042
     Dates: start: 20171019
  362. INFLIXIMAB [Suspect]
     Active Substance: INFLIXIMAB
     Dosage: 5 MILLIGRAM/KILOGRAM, Q8WK
     Route: 042
     Dates: start: 20171019
  363. INFLIXIMAB [Suspect]
     Active Substance: INFLIXIMAB
     Dosage: 5 MILLIGRAM/KILOGRAM, Q8WK
     Route: 042
     Dates: start: 20171019
  364. INFLIXIMAB [Suspect]
     Active Substance: INFLIXIMAB
     Dosage: 5 MILLIGRAM/KILOGRAM, Q8WK
     Route: 042
     Dates: start: 20170101, end: 20170901
  365. INFLIXIMAB [Suspect]
     Active Substance: INFLIXIMAB
     Dosage: 5 MILLIGRAM/KILOGRAM, Q8WK
     Route: 042
     Dates: start: 20170101, end: 20170901
  366. INFLIXIMAB [Suspect]
     Active Substance: INFLIXIMAB
     Dosage: 5 MILLIGRAM/KILOGRAM, Q8WK
     Route: 042
     Dates: start: 20170101, end: 20170901
  367. INFLIXIMAB [Suspect]
     Active Substance: INFLIXIMAB
     Dosage: UNK
     Route: 042
     Dates: start: 201709
  368. INFLIXIMAB [Suspect]
     Active Substance: INFLIXIMAB
     Dosage: UNK
     Route: 042
     Dates: start: 201709
  369. INFLIXIMAB [Suspect]
     Active Substance: INFLIXIMAB
     Dosage: UNK
     Route: 042
     Dates: start: 201709
  370. LEVOTHYROXINE SODIUM [Suspect]
     Active Substance: LEVOTHYROXINE SODIUM
     Indication: Product used for unknown indication
     Dosage: 100 MILLIGRAM
     Route: 065
  371. LEVOTHYROXINE SODIUM [Suspect]
     Active Substance: LEVOTHYROXINE SODIUM
     Dosage: 100 MILLIGRAM
     Route: 065
  372. LEVOTHYROXINE SODIUM [Suspect]
     Active Substance: LEVOTHYROXINE SODIUM
     Dosage: 100 MILLIGRAM
  373. LEVOTHYROXINE SODIUM [Suspect]
     Active Substance: LEVOTHYROXINE SODIUM
     Dosage: 100 MILLIGRAM
  374. MEBEVERINE HYDROCHLORIDE [Suspect]
     Active Substance: MEBEVERINE HYDROCHLORIDE
     Indication: Product used for unknown indication
     Dosage: 200 MILLIGRAM
     Route: 065
  375. MEBEVERINE HYDROCHLORIDE [Suspect]
     Active Substance: MEBEVERINE HYDROCHLORIDE
     Dosage: 200 MILLIGRAM, 2 DOSE PER 1 D
     Route: 065
  376. MEBEVERINE HYDROCHLORIDE [Suspect]
     Active Substance: MEBEVERINE HYDROCHLORIDE
     Dosage: UNK
  377. MEBEVERINE HYDROCHLORIDE [Suspect]
     Active Substance: MEBEVERINE HYDROCHLORIDE
     Dosage: UNK
  378. MEBEVERINE HYDROCHLORIDE [Suspect]
     Active Substance: MEBEVERINE HYDROCHLORIDE
     Dosage: UNK
  379. MEBEVERINE HYDROCHLORIDE [Suspect]
     Active Substance: MEBEVERINE HYDROCHLORIDE
     Dosage: UNK
  380. MEBEVERINE HYDROCHLORIDE [Suspect]
     Active Substance: MEBEVERINE HYDROCHLORIDE
     Dosage: UNK
  381. MEBEVERINE HYDROCHLORIDE [Suspect]
     Active Substance: MEBEVERINE HYDROCHLORIDE
     Dosage: 200 MILLIGRAM
  382. METFORMIN [Suspect]
     Active Substance: METFORMIN HYDROCHLORIDE
     Indication: Product used for unknown indication
     Dosage: 500 MILLIGRAM
     Route: 065
  383. METFORMIN [Suspect]
     Active Substance: METFORMIN HYDROCHLORIDE
     Dosage: 1000 MILLIGRAM, QD
     Route: 065
  384. METFORMIN [Suspect]
     Active Substance: METFORMIN HYDROCHLORIDE
     Dosage: 500 MILLIGRAM
  385. METFORMIN [Suspect]
     Active Substance: METFORMIN HYDROCHLORIDE
     Dosage: 500 MILLIGRAM
  386. METFORMIN [Suspect]
     Active Substance: METFORMIN HYDROCHLORIDE
     Dosage: 500 MILLIGRAM
  387. MESALAMINE [Suspect]
     Active Substance: MESALAMINE
     Indication: Colitis ulcerative
     Dosage: UNK
     Route: 048
     Dates: start: 20160101, end: 20161001
  388. MESALAMINE [Suspect]
     Active Substance: MESALAMINE
     Dosage: UNK
     Route: 048
     Dates: start: 20160101, end: 20161001
  389. MESALAMINE [Suspect]
     Active Substance: MESALAMINE
     Dosage: UNK
     Route: 065
     Dates: start: 201601, end: 201610
  390. MESALAMINE [Suspect]
     Active Substance: MESALAMINE
     Dosage: 2.4 GRAM, TABLET
     Route: 065
  391. MESALAMINE [Suspect]
     Active Substance: MESALAMINE
     Dosage: 2.4 GRAM
     Route: 065
     Dates: start: 201601, end: 201610
  392. MESALAMINE [Suspect]
     Active Substance: MESALAMINE
     Dosage: UNK
     Route: 048
     Dates: start: 20160101, end: 20161001
  393. MESALAMINE [Suspect]
     Active Substance: MESALAMINE
     Dosage: UNK
     Route: 048
     Dates: start: 20160101, end: 20161001
  394. MESALAMINE [Suspect]
     Active Substance: MESALAMINE
     Dosage: UNK
     Route: 048
     Dates: start: 20160101, end: 201610
  395. MESALAMINE [Suspect]
     Active Substance: MESALAMINE
     Dosage: UNK
     Route: 048
     Dates: start: 20160101, end: 201610
  396. MESALAMINE [Suspect]
     Active Substance: MESALAMINE
     Dosage: UNK
     Route: 048
     Dates: start: 20160101, end: 201610
  397. MESALAMINE [Suspect]
     Active Substance: MESALAMINE
     Dosage: UNK
     Route: 048
     Dates: start: 20160101, end: 201610
  398. MESALAMINE [Suspect]
     Active Substance: MESALAMINE
     Dosage: 2.4 GRAM
     Dates: start: 201601, end: 201610
  399. MESALAMINE [Suspect]
     Active Substance: MESALAMINE
     Dosage: 50 MILLIGRAM, 1 EVERY 1 DAYS
  400. MESALAMINE [Suspect]
     Active Substance: MESALAMINE
     Dosage: 3 DOSAGE FORM, 2 EVERY 1 DAYS
  401. MESALAMINE [Suspect]
     Active Substance: MESALAMINE
     Dosage: 6 DOSAGE FORMS, 1 EVERY 1 DAYS
  402. MESALAMINE [Suspect]
     Active Substance: MESALAMINE
     Dosage: 40 MICROGRAM, 1 EVERY 1 DAYS
     Route: 065
  403. MESALAMINE [Suspect]
     Active Substance: MESALAMINE
     Dosage: 1 DOSAGE FORM, 1 EVERY 1 DAYS
     Route: 065
  404. MESALAMINE [Suspect]
     Active Substance: MESALAMINE
     Dosage: 50 MICROGRAM
     Route: 065
  405. MESALAMINE [Suspect]
     Active Substance: MESALAMINE
     Dosage: 12 DOSAGE FORM, 1 EVERY 1 DAYS
     Route: 065
  406. MESALAMINE [Suspect]
     Active Substance: MESALAMINE
     Dosage: 4.8 GRAM, 1 EVERY 1 DAYS
     Route: 065
  407. MESALAMINE [Suspect]
     Active Substance: MESALAMINE
     Dosage: 30 DOSAGE FORM, 2 EVERY 1 DAYS
     Route: 065
  408. MESALAMINE [Suspect]
     Active Substance: MESALAMINE
     Dosage: 3 GRAM, 1 EVERY 1 DAYS
     Route: 065
  409. MESALAMINE [Suspect]
     Active Substance: MESALAMINE
     Dosage: 3 DOSAGE FORM, EVERY 12 HOURS
     Route: 065
  410. MESALAMINE [Suspect]
     Active Substance: MESALAMINE
     Dosage: 24 DOSAGE FORM, 1 EVERY 1 DAYS
     Route: 065
  411. MESALAMINE [Suspect]
     Active Substance: MESALAMINE
     Dosage: 6 DOSAGE FORM, 2 EVERY 1 DAYS
     Route: 065
  412. MESALAMINE [Suspect]
     Active Substance: MESALAMINE
     Dosage: 2.4 GRAM/1 EVERY 1 MONTHS
  413. OMEPRAZOLE [Suspect]
     Active Substance: OMEPRAZOLE
     Indication: Gastritis
     Dosage: 20 MILLIGRAM
     Route: 065
  414. OMEPRAZOLE [Suspect]
     Active Substance: OMEPRAZOLE
     Dosage: 20 MILLIGRAM
     Route: 065
  415. OMEPRAZOLE [Suspect]
     Active Substance: OMEPRAZOLE
     Dosage: 20 MILLIGRAM, CAPSULE
     Route: 065
  416. OMEPRAZOLE [Suspect]
     Active Substance: OMEPRAZOLE
     Dosage: 20 MILLIGRAM
  417. OMEPRAZOLE [Suspect]
     Active Substance: OMEPRAZOLE
     Dosage: 20 MILLIGRAM
  418. OXYCODONE [Suspect]
     Active Substance: OXYCODONE
     Indication: Product used for unknown indication
     Dosage: 5 MILLIGRAM
     Route: 065
  419. OXYCODONE [Suspect]
     Active Substance: OXYCODONE
     Dosage: 5 MILLIGRAM, 2 DOSE PER 1 D
     Route: 065
  420. PARA-AMINOSALICYLIC ACID [Suspect]
     Active Substance: AMINOSALICYLIC ACID
     Indication: Product used for unknown indication
     Dosage: UNK
     Route: 048
  421. PARA-AMINOSALICYLIC ACID [Suspect]
     Active Substance: AMINOSALICYLIC ACID
     Indication: Deep vein thrombosis
     Dosage: UNK
     Route: 048
  422. PARA-AMINOSALICYLIC ACID [Suspect]
     Active Substance: AMINOSALICYLIC ACID
     Indication: Colitis ulcerative
     Dosage: UNK
     Route: 048
  423. PARA-AMINOSALICYLIC ACID [Suspect]
     Active Substance: AMINOSALICYLIC ACID
     Dosage: UNK
     Route: 048
  424. PARA-AMINOSALICYLIC ACID [Suspect]
     Active Substance: AMINOSALICYLIC ACID
     Dosage: UNK
     Route: 048
  425. PARA-AMINOSALICYLIC ACID [Suspect]
     Active Substance: AMINOSALICYLIC ACID
     Dosage: UNK
     Route: 048
  426. PARA-AMINOSALICYLIC ACID [Suspect]
     Active Substance: AMINOSALICYLIC ACID
     Dosage: UNK
     Route: 048
  427. PARA-AMINOSALICYLIC ACID [Suspect]
     Active Substance: AMINOSALICYLIC ACID
     Dosage: UNK
     Route: 048
  428. PREDNISONE [Suspect]
     Active Substance: PREDNISONE
     Indication: Colitis ulcerative
     Dosage: UNK
     Route: 065
     Dates: start: 2017
  429. PREDNISONE [Suspect]
     Active Substance: PREDNISONE
     Dosage: UNK
     Route: 065
  430. PREDNISONE [Suspect]
     Active Substance: PREDNISONE
     Dosage: 40 MILLIGRAM,  1 EVERY 1 DAYS
     Route: 065
  431. PREDNISONE [Suspect]
     Active Substance: PREDNISONE
     Dosage: 50 MILLIGRAM,  1 EVERY 1 DAYS
     Route: 065
  432. PREDNISONE [Suspect]
     Active Substance: PREDNISONE
     Dosage: 50 MILLIGRAM
     Route: 065
     Dates: start: 2009, end: 2009
  433. PREDNISONE [Suspect]
     Active Substance: PREDNISONE
     Dosage: UNK
     Route: 065
  434. PREDNISONE [Suspect]
     Active Substance: PREDNISONE
     Dosage: UNK
     Route: 065
  435. PREDNISONE [Suspect]
     Active Substance: PREDNISONE
     Dosage: UNK
  436. PREDNISONE [Suspect]
     Active Substance: PREDNISONE
     Dosage: UNK
  437. PREDNISONE [Suspect]
     Active Substance: PREDNISONE
     Dosage: 50 MILLIGRAM,  1 EVERY 1 DAYS
  438. PREDNISONE [Suspect]
     Active Substance: PREDNISONE
     Dosage: UNK
  439. PREDNISONE [Suspect]
     Active Substance: PREDNISONE
     Dosage: UNK
  440. PREDNISONE [Suspect]
     Active Substance: PREDNISONE
     Dosage: UNK
  441. PREDNISONE [Suspect]
     Active Substance: PREDNISONE
     Dosage: UNK
  442. PREDNISONE [Suspect]
     Active Substance: PREDNISONE
     Dosage: UNK
  443. PREDNISONE [Suspect]
     Active Substance: PREDNISONE
     Dosage: UNK
  444. PREDNISONE [Suspect]
     Active Substance: PREDNISONE
     Dosage: 40 MILLIGRAM,  1 EVERY 1 DAYS
  445. PREDNISONE [Suspect]
     Active Substance: PREDNISONE
     Dosage: UNK
  446. PREDNISONE [Suspect]
     Active Substance: PREDNISONE
     Dosage: UNK
  447. PREDNISONE [Suspect]
     Active Substance: PREDNISONE
     Dosage: 50 MILLIGRAM
  448. PREDNISONE [Suspect]
     Active Substance: PREDNISONE
     Dosage: 50 MILLIGRAM
  449. PREDNISONE [Suspect]
     Active Substance: PREDNISONE
     Dosage: 50 MILLIGRAM
     Dates: start: 2009, end: 2009
  450. PREDNISONE [Suspect]
     Active Substance: PREDNISONE
     Dosage: UNK
     Dates: start: 2017
  451. ROSUVASTATIN [Suspect]
     Active Substance: ROSUVASTATIN
     Indication: Blood cholesterol increased
     Dosage: UNK
     Route: 065
  452. ROSUVASTATIN [Suspect]
     Active Substance: ROSUVASTATIN
     Indication: Ill-defined disorder
     Dosage: 10 MILLIGRAM
     Route: 065
  453. ROSUVASTATIN [Suspect]
     Active Substance: ROSUVASTATIN
     Dosage: 10 MILLIGRAM, 1 DOSE PER 1 D
     Route: 065
  454. ROSUVASTATIN [Suspect]
     Active Substance: ROSUVASTATIN
     Dosage: UNK
  455. MESALAMINE [Suspect]
     Active Substance: MESALAMINE
     Indication: Product used for unknown indication
     Dosage: UNK
     Route: 065
  456. SULFASALAZINE [Suspect]
     Active Substance: SULFASALAZINE
     Indication: Arthritis
     Dosage: UNK
     Route: 065
  457. SULFASALAZINE [Suspect]
     Active Substance: SULFASALAZINE
     Indication: Colitis ulcerative
     Dosage: UNK
     Route: 065
  458. SULFASALAZINE [Suspect]
     Active Substance: SULFASALAZINE
     Dosage: UNK
     Route: 065
  459. SULFASALAZINE [Suspect]
     Active Substance: SULFASALAZINE
     Dosage: UNK
     Route: 065
  460. SULFASALAZINE [Suspect]
     Active Substance: SULFASALAZINE
     Dosage: UNK
     Route: 065
  461. SULFASALAZINE [Suspect]
     Active Substance: SULFASALAZINE
     Dosage: 3 MILLIGRAM,  1 EVERY 1 DAYS
     Route: 048
  462. SULFASALAZINE [Suspect]
     Active Substance: SULFASALAZINE
     Dosage: 5 MILLIGRAM,  1 EVERY 1 DAYS
     Route: 048
  463. SULFASALAZINE [Suspect]
     Active Substance: SULFASALAZINE
     Dosage: UNK
     Route: 065
  464. SULFASALAZINE [Suspect]
     Active Substance: SULFASALAZINE
     Dosage: UNK
     Route: 065
     Dates: start: 20160101, end: 20160101
  465. SULFASALAZINE [Suspect]
     Active Substance: SULFASALAZINE
     Dosage: UNK UNK, UNK
     Route: 065
     Dates: start: 20090101, end: 20160101
  466. SULFASALAZINE [Suspect]
     Active Substance: SULFASALAZINE
     Dosage: UNK
     Route: 065
     Dates: start: 201709, end: 201709
  467. SULFASALAZINE [Suspect]
     Active Substance: SULFASALAZINE
     Dosage: UNK
     Route: 065
     Dates: start: 2009, end: 2016
  468. SULFASALAZINE [Suspect]
     Active Substance: SULFASALAZINE
     Dosage: UNK
     Route: 065
  469. SULFASALAZINE [Suspect]
     Active Substance: SULFASALAZINE
     Dosage: UNK
  470. SULFASALAZINE [Suspect]
     Active Substance: SULFASALAZINE
     Dosage: UNK
  471. SULFASALAZINE [Suspect]
     Active Substance: SULFASALAZINE
     Dosage: UNK
  472. SULFASALAZINE [Suspect]
     Active Substance: SULFASALAZINE
     Dosage: UNK
  473. SULFASALAZINE [Suspect]
     Active Substance: SULFASALAZINE
     Dosage: UNK
  474. SULFASALAZINE [Suspect]
     Active Substance: SULFASALAZINE
     Dosage: UNK
  475. SULFASALAZINE [Suspect]
     Active Substance: SULFASALAZINE
     Dosage: UNK
  476. SULFASALAZINE [Suspect]
     Active Substance: SULFASALAZINE
     Dosage: UNK
  477. SULFASALAZINE [Suspect]
     Active Substance: SULFASALAZINE
     Dosage: UNK
  478. SULFASALAZINE [Suspect]
     Active Substance: SULFASALAZINE
     Dosage: UNK
  479. SULFASALAZINE [Suspect]
     Active Substance: SULFASALAZINE
     Dosage: UNK
  480. SULFASALAZINE [Suspect]
     Active Substance: SULFASALAZINE
     Dosage: UNK
  481. SULFASALAZINE [Suspect]
     Active Substance: SULFASALAZINE
     Dosage: UNK
  482. SULFASALAZINE [Suspect]
     Active Substance: SULFASALAZINE
     Dosage: UNK
  483. SULFASALAZINE [Suspect]
     Active Substance: SULFASALAZINE
     Dosage: 5 MILLIGRAM,  1 EVERY 1 DAYS
     Route: 048
  484. SULFASALAZINE [Suspect]
     Active Substance: SULFASALAZINE
     Dosage: 5 MILLIGRAM,  1 EVERY 1 DAYS
     Route: 048
  485. SULFASALAZINE [Suspect]
     Active Substance: SULFASALAZINE
     Dosage: 5 MILLIGRAM,  1 EVERY 1 DAYS
     Route: 048
  486. SULFASALAZINE [Suspect]
     Active Substance: SULFASALAZINE
     Dosage: 1 EVERY 1 DAYS
  487. SULFASALAZINE [Suspect]
     Active Substance: SULFASALAZINE
     Dosage: 1 EVERY 1 DAYS
  488. SULFASALAZINE [Suspect]
     Active Substance: SULFASALAZINE
     Dosage: 3 MILLIGRAM,  1 EVERY 1 DAYS
     Route: 048
  489. SULFASALAZINE [Suspect]
     Active Substance: SULFASALAZINE
     Dosage: 3 MILLIGRAM,  1 EVERY 1 DAYS
     Route: 048
  490. SULFASALAZINE [Suspect]
     Active Substance: SULFASALAZINE
     Dosage: 3 MILLIGRAM,  1 EVERY 1 DAYS
     Route: 048
  491. SULFASALAZINE [Suspect]
     Active Substance: SULFASALAZINE
     Dosage: UNK
  492. SULFASALAZINE [Suspect]
     Active Substance: SULFASALAZINE
     Dosage: UNK
  493. SULFASALAZINE [Suspect]
     Active Substance: SULFASALAZINE
     Dosage: UNK
  494. SULFASALAZINE [Suspect]
     Active Substance: SULFASALAZINE
     Dosage: UNK
  495. SULFASALAZINE [Suspect]
     Active Substance: SULFASALAZINE
     Dosage: UNK
     Dates: start: 20160101, end: 20160101
  496. SULFASALAZINE [Suspect]
     Active Substance: SULFASALAZINE
     Dosage: UNK
     Dates: start: 2009, end: 2016
  497. SULFASALAZINE [Suspect]
     Active Substance: SULFASALAZINE
     Dosage: UNK
     Dates: start: 201709, end: 201709
  498. SULFASALAZINE [Suspect]
     Active Substance: SULFASALAZINE
     Dosage: UNK UNK, UNK
     Dates: start: 20090101, end: 20160101
  499. TOZINAMERAN [Suspect]
     Active Substance: TOZINAMERAN
     Indication: Product used for unknown indication
     Dosage: DOSE 3
     Route: 065
     Dates: start: 20220322, end: 20220322
  500. TOZINAMERAN [Suspect]
     Active Substance: TOZINAMERAN
     Dosage: DOSE 3
     Dates: start: 20220322, end: 20220322
  501. TOZINAMERAN [Suspect]
     Active Substance: TOZINAMERAN
     Dosage: DOSE 3
     Dates: start: 20220322, end: 20220322
  502. TOZINAMERAN [Suspect]
     Active Substance: TOZINAMERAN
     Dosage: DOSE 3
     Dates: start: 20220322, end: 20220322
  503. VITAMIN D3 [Suspect]
     Active Substance: CHOLECALCIFEROL
     Indication: Product used for unknown indication
     Dosage: 100 MILLIGRAM
     Route: 048
  504. VITAMIN D3 [Suspect]
     Active Substance: CHOLECALCIFEROL
     Dosage: 100 MILLIGRAM
     Route: 048
  505. VITAMIN D3 [Suspect]
     Active Substance: CHOLECALCIFEROL
     Dosage: 100 MILLIGRAM
     Route: 048
  506. VITAMIN D3 [Suspect]
     Active Substance: CHOLECALCIFEROL
     Dosage: 100 MILLIGRAM
     Route: 048
  507. VYVANSE [Suspect]
     Active Substance: LISDEXAMFETAMINE DIMESYLATE
     Indication: Attention deficit hyperactivity disorder
     Dosage: UNK
     Route: 065
  508. VYVANSE [Suspect]
     Active Substance: LISDEXAMFETAMINE DIMESYLATE
     Dosage: UNK
  509. VYVANSE [Suspect]
     Active Substance: LISDEXAMFETAMINE DIMESYLATE
     Dosage: UNK
  510. VYVANSE [Suspect]
     Active Substance: LISDEXAMFETAMINE DIMESYLATE
     Dosage: UNK
     Route: 048
  511. VYVANSE [Suspect]
     Active Substance: LISDEXAMFETAMINE DIMESYLATE
     Dosage: UNK
     Route: 048
  512. VYVANSE [Suspect]
     Active Substance: LISDEXAMFETAMINE DIMESYLATE
     Dosage: UNK
     Route: 048
  513. VYVANSE [Suspect]
     Active Substance: LISDEXAMFETAMINE DIMESYLATE
     Dosage: UNK
     Route: 048
  514. WARFARIN [Suspect]
     Active Substance: WARFARIN
     Indication: Deep vein thrombosis
     Dosage: UNK
     Route: 065
     Dates: start: 2009
  515. WARFARIN [Suspect]
     Active Substance: WARFARIN
     Indication: Colitis ulcerative
     Dosage: 8 DOSAGE FORM, 1 DOSE PER 1 D
     Route: 048
     Dates: start: 2009
  516. WARFARIN [Suspect]
     Active Substance: WARFARIN
     Dosage: UNK
     Route: 048
  517. WARFARIN [Suspect]
     Active Substance: WARFARIN
     Dosage: 1 DOSAGE FORM, 1 DOSE PER 1 D
     Route: 048
     Dates: start: 2009
  518. WARFARIN [Suspect]
     Active Substance: WARFARIN
     Dosage: 8 DOSAGE FORM, 1 DOSE PER 8W
     Route: 048
     Dates: start: 2009
  519. WARFARIN [Suspect]
     Active Substance: WARFARIN
     Dosage: UNK
     Route: 048
  520. WARFARIN [Suspect]
     Active Substance: WARFARIN
     Dosage: UNK
     Dates: start: 2009
  521. WARFARIN [Suspect]
     Active Substance: WARFARIN
     Dosage: UNK
     Dates: start: 2009
  522. WARFARIN [Suspect]
     Active Substance: WARFARIN
     Dosage: UNK
     Dates: start: 2009
  523. WARFARIN [Suspect]
     Active Substance: WARFARIN
     Dosage: 8 DOSAGE FORM
     Route: 048
  524. WARFARIN SODIUM [Suspect]
     Active Substance: WARFARIN SODIUM
     Indication: Deep vein thrombosis
     Dosage: UNK
     Route: 048
  525. WARFARIN SODIUM [Suspect]
     Active Substance: WARFARIN SODIUM
     Indication: Colitis ulcerative
     Dosage: UNK
     Route: 065
     Dates: start: 2019
  526. WARFARIN SODIUM [Suspect]
     Active Substance: WARFARIN SODIUM
     Dosage: 1 DOSAGE FORM,  1 EVERY 1 DAYS
     Route: 048
  527. WARFARIN SODIUM [Suspect]
     Active Substance: WARFARIN SODIUM
     Dosage: 8 DOSAGE FORM, 1 DOSE PER 8W
     Route: 048
  528. WARFARIN SODIUM [Suspect]
     Active Substance: WARFARIN SODIUM
     Dosage: 8 DOSAGE FORM
     Route: 048
  529. WARFARIN SODIUM [Suspect]
     Active Substance: WARFARIN SODIUM
     Dosage: 1 DOSAGE FORM,  1 EVERY 1 DAYS
     Route: 048
  530. WARFARIN SODIUM [Suspect]
     Active Substance: WARFARIN SODIUM
     Dosage: 8 DOSAGE FORM, 1 EVERY 8 WEEKS
     Route: 048
  531. WARFARIN SODIUM [Suspect]
     Active Substance: WARFARIN SODIUM
     Dosage: UNK
  532. WARFARIN SODIUM [Suspect]
     Active Substance: WARFARIN SODIUM
     Dosage: UNK
  533. WARFARIN SODIUM [Suspect]
     Active Substance: WARFARIN SODIUM
     Dosage: UNK
     Route: 048
  534. WARFARIN SODIUM [Suspect]
     Active Substance: WARFARIN SODIUM
     Dosage: 1 DOSAGE FORM,  1 EVERY 1 DAYS
     Route: 048
  535. WARFARIN SODIUM [Suspect]
     Active Substance: WARFARIN SODIUM
     Dosage: 1 DOSAGE FORM,  1 EVERY 1 DAYS
     Route: 048
  536. WARFARIN SODIUM [Suspect]
     Active Substance: WARFARIN SODIUM
     Dosage: 8 DOSAGE FORM, 1 EVERY 8 WEEKS
     Route: 048
  537. WARFARIN SODIUM [Suspect]
     Active Substance: WARFARIN SODIUM
     Dosage: 8 DOSAGE FORM, 1 EVERY 8 WEEKS
     Route: 048
  538. WARFARIN SODIUM [Suspect]
     Active Substance: WARFARIN SODIUM
     Dosage: 8 DOSAGE FORM, 1 EVERY 8 WEEKS
     Route: 048
  539. WARFARIN SODIUM [Suspect]
     Active Substance: WARFARIN SODIUM
     Dosage: UNK
  540. WARFARIN SODIUM [Suspect]
     Active Substance: WARFARIN SODIUM
     Dosage: UNK
  541. WARFARIN SODIUM [Suspect]
     Active Substance: WARFARIN SODIUM
     Dosage: UNK
  542. WARFARIN SODIUM [Suspect]
     Active Substance: WARFARIN SODIUM
     Dosage: UNK
  543. WARFARIN SODIUM [Suspect]
     Active Substance: WARFARIN SODIUM
     Indication: Colitis ulcerative
     Dosage: 8 DOSAGE FORM, Q8WK
     Route: 048
     Dates: start: 201707
  544. WARFARIN SODIUM [Suspect]
     Active Substance: WARFARIN SODIUM
     Indication: Deep vein thrombosis
     Dosage: 1 DOSAGE FORM, QD
     Route: 048
     Dates: start: 201707
  545. WARFARIN SODIUM [Suspect]
     Active Substance: WARFARIN SODIUM
     Dosage: 1 DOSAGE FORM, QD
     Route: 048
     Dates: start: 2009, end: 2009
  546. WARFARIN SODIUM [Suspect]
     Active Substance: WARFARIN SODIUM
     Dosage: UNK
     Route: 048
     Dates: start: 2009, end: 2009
  547. WARFARIN SODIUM [Suspect]
     Active Substance: WARFARIN SODIUM
     Dosage: UNK
     Route: 065
     Dates: start: 2019
  548. WARFARIN SODIUM [Suspect]
     Active Substance: WARFARIN SODIUM
     Dosage: UNK
     Dates: end: 2019
  549. WARFARIN SODIUM [Suspect]
     Active Substance: WARFARIN SODIUM
     Dosage: UNK
     Route: 048
     Dates: start: 2009, end: 2009
  550. WARFARIN SODIUM [Suspect]
     Active Substance: WARFARIN SODIUM
     Dosage: UNK
     Route: 048
     Dates: start: 2009, end: 2009
  551. WARFARIN SODIUM [Suspect]
     Active Substance: WARFARIN SODIUM
     Dosage: UNK
     Route: 048
     Dates: start: 2009, end: 2009
  552. WARFARIN SODIUM [Suspect]
     Active Substance: WARFARIN SODIUM
     Dosage: 8 DOSAGE FORM, Q8WK
     Route: 048
     Dates: start: 201707
  553. WARFARIN SODIUM [Suspect]
     Active Substance: WARFARIN SODIUM
     Dosage: 8 DOSAGE FORM, Q8WK
     Route: 048
     Dates: start: 201707
  554. WARFARIN SODIUM [Suspect]
     Active Substance: WARFARIN SODIUM
     Dosage: 8 DOSAGE FORM, Q8WK
     Route: 048
     Dates: start: 201707
  555. WARFARIN SODIUM [Suspect]
     Active Substance: WARFARIN SODIUM
     Dosage: UNK
     Dates: end: 2019
  556. WARFARIN SODIUM [Suspect]
     Active Substance: WARFARIN SODIUM
     Dosage: UNK
     Dates: end: 2019
  557. VEDOLIZUMAB [Suspect]
     Active Substance: VEDOLIZUMAB
     Indication: Colitis ulcerative
     Dosage: 1 DOSAGE FORM, QD
     Route: 048
  558. VEDOLIZUMAB [Suspect]
     Active Substance: VEDOLIZUMAB
     Indication: Deep vein thrombosis
     Dosage: UNK
     Route: 042
     Dates: start: 2017, end: 2017
  559. VEDOLIZUMAB [Suspect]
     Active Substance: VEDOLIZUMAB
     Dosage: UNK
     Route: 042
     Dates: start: 2017, end: 2017
  560. VEDOLIZUMAB [Suspect]
     Active Substance: VEDOLIZUMAB
     Dosage: UNK
     Route: 042
     Dates: start: 2017, end: 2017
  561. VEDOLIZUMAB [Suspect]
     Active Substance: VEDOLIZUMAB
     Dosage: UNK
     Route: 042
     Dates: start: 2017, end: 2017
  562. VEDOLIZUMAB [Suspect]
     Active Substance: VEDOLIZUMAB
     Dosage: 1 DOSAGE FORM, QD
     Route: 048
  563. VEDOLIZUMAB [Suspect]
     Active Substance: VEDOLIZUMAB
     Dosage: 1 DOSAGE FORM, QD
     Route: 048
  564. VEDOLIZUMAB [Suspect]
     Active Substance: VEDOLIZUMAB
     Dosage: 1 DOSAGE FORM, QD
     Route: 048
  565. LATANOPROST [Concomitant]
     Active Substance: LATANOPROST
     Indication: Crohn^s disease
     Dosage: UNK
     Route: 065
  566. LATANOPROST [Concomitant]
     Active Substance: LATANOPROST
     Indication: Colitis ulcerative
     Dosage: UNK
     Route: 065
  567. LATANOPROST [Concomitant]
     Active Substance: LATANOPROST
     Dosage: UNK
  568. LATANOPROST [Concomitant]
     Active Substance: LATANOPROST
     Dosage: UNK
  569. LATANOPROST [Concomitant]
     Active Substance: LATANOPROST
     Dosage: UNK
  570. LATANOPROST [Concomitant]
     Active Substance: LATANOPROST
     Dosage: UNK
  571. LATANOPROST [Concomitant]
     Active Substance: LATANOPROST
     Dosage: UNK
  572. FESOTERODINE FUMARATE [Concomitant]
     Active Substance: FESOTERODINE FUMARATE
     Indication: Product used for unknown indication
     Dosage: UNK
     Route: 065
  573. FESOTERODINE FUMARATE [Concomitant]
     Active Substance: FESOTERODINE FUMARATE
     Dosage: UNK
  574. FESOTERODINE FUMARATE [Concomitant]
     Active Substance: FESOTERODINE FUMARATE
     Dosage: UNK
  575. FESOTERODINE FUMARATE [Concomitant]
     Active Substance: FESOTERODINE FUMARATE
     Dosage: UNK
  576. FESOTERODINE FUMARATE [Concomitant]
     Active Substance: FESOTERODINE FUMARATE
     Dosage: UNK
  577. POLYETHYLENE GLYCOLS [Concomitant]
     Active Substance: POLYETHYLENE GLYCOLS
     Indication: Product used for unknown indication
     Dosage: UNK
     Route: 065
  578. POLYETHYLENE GLYCOLS [Concomitant]
     Active Substance: POLYETHYLENE GLYCOLS
     Dosage: UNK
  579. POLYETHYLENE GLYCOL 3350\POTASSIUM CHLORIDE\SODIUM BICARBONATE\SODIUM [Concomitant]
     Active Substance: POLYETHYLENE GLYCOL 3350\POTASSIUM CHLORIDE\SODIUM BICARBONATE\SODIUM CHLORIDE
     Indication: Ill-defined disorder
     Dosage: UNK
     Route: 065
  580. POLYETHYLENE GLYCOL 3350\POTASSIUM CHLORIDE\SODIUM BICARBONATE\SODIUM [Concomitant]
     Active Substance: POLYETHYLENE GLYCOL 3350\POTASSIUM CHLORIDE\SODIUM BICARBONATE\SODIUM CHLORIDE
     Indication: Product used for unknown indication
     Dosage: UNK
  581. POLYETHYLENE GLYCOL 3350\POTASSIUM CHLORIDE\SODIUM BICARBONATE\SODIUM [Concomitant]
     Active Substance: POLYETHYLENE GLYCOL 3350\POTASSIUM CHLORIDE\SODIUM BICARBONATE\SODIUM CHLORIDE
     Dosage: UNK
  582. AMLODIPINE BESYLATE [Concomitant]
     Active Substance: AMLODIPINE BESYLATE
     Indication: Product used for unknown indication
     Dosage: UNK
     Route: 065
  583. AMLODIPINE BESYLATE [Concomitant]
     Active Substance: AMLODIPINE BESYLATE
     Dosage: UNK
  584. AMLODIPINE BESYLATE [Concomitant]
     Active Substance: AMLODIPINE BESYLATE
     Dosage: UNK
  585. AMLODIPINE BESYLATE [Concomitant]
     Active Substance: AMLODIPINE BESYLATE
     Dosage: UNK
  586. AMLODIPINE BESYLATE [Concomitant]
     Active Substance: AMLODIPINE BESYLATE
     Dosage: UNK
  587. ATORVASTATIN CALCIUM [Concomitant]
     Active Substance: ATORVASTATIN CALCIUM
     Indication: Product used for unknown indication
     Dosage: UNK
     Route: 065
  588. ATORVASTATIN CALCIUM [Concomitant]
     Active Substance: ATORVASTATIN CALCIUM
     Dosage: UNK
  589. ATORVASTATIN CALCIUM [Concomitant]
     Active Substance: ATORVASTATIN CALCIUM
     Dosage: UNK
  590. ATORVASTATIN CALCIUM [Concomitant]
     Active Substance: ATORVASTATIN CALCIUM
     Dosage: UNK
  591. ATORVASTATIN CALCIUM [Concomitant]
     Active Substance: ATORVASTATIN CALCIUM
     Dosage: UNK
  592. DORZOLAMIDE HYDROCHLORIDE [Concomitant]
     Active Substance: DORZOLAMIDE HYDROCHLORIDE
     Indication: Ill-defined disorder
     Dosage: UNK
     Route: 065
  593. DORZOLAMIDE HYDROCHLORIDE [Concomitant]
     Active Substance: DORZOLAMIDE HYDROCHLORIDE
     Indication: Product used for unknown indication
     Dosage: UNK
  594. DORZOLAMIDE HYDROCHLORIDE [Concomitant]
     Active Substance: DORZOLAMIDE HYDROCHLORIDE
     Dosage: UNK
  595. DORZOLAMIDE HYDROCHLORIDE [Concomitant]
     Active Substance: DORZOLAMIDE HYDROCHLORIDE
     Dosage: UNK
  596. DORZOLAMIDE HYDROCHLORIDE [Concomitant]
     Active Substance: DORZOLAMIDE HYDROCHLORIDE
     Dosage: UNK
  597. RAMIPRIL [Concomitant]
     Active Substance: RAMIPRIL
     Indication: Ill-defined disorder
     Dosage: UNK
     Route: 065
  598. RAMIPRIL [Concomitant]
     Active Substance: RAMIPRIL
     Dosage: UNK
  599. RAMIPRIL [Concomitant]
     Active Substance: RAMIPRIL
     Dosage: UNK
  600. RAMIPRIL [Concomitant]
     Active Substance: RAMIPRIL
     Dosage: UNK
  601. RAMIPRIL [Concomitant]
     Active Substance: RAMIPRIL
     Dosage: UNK
  602. RIVAROXABAN [Concomitant]
     Active Substance: RIVAROXABAN
     Indication: Ill-defined disorder
     Dosage: UNK
     Route: 065
  603. RIVAROXABAN [Concomitant]
     Active Substance: RIVAROXABAN
     Indication: Product used for unknown indication
     Dosage: UNK
  604. RIVAROXABAN [Concomitant]
     Active Substance: RIVAROXABAN
     Dosage: UNK
  605. RIVAROXABAN [Concomitant]
     Active Substance: RIVAROXABAN
     Dosage: UNK
  606. RIVAROXABAN [Concomitant]
     Active Substance: RIVAROXABAN
     Dosage: UNK
  607. METHOTREXATE [Concomitant]
     Active Substance: METHOTREXATE
     Indication: Colitis ulcerative
     Dosage: UNK
     Route: 065
  608. METHOTREXATE [Concomitant]
     Active Substance: METHOTREXATE
     Dosage: UNK
     Route: 065
  609. METHOTREXATE [Concomitant]
     Active Substance: METHOTREXATE
     Dosage: UNK
     Route: 065
     Dates: start: 20090101, end: 20160101
  610. METHOTREXATE [Concomitant]
     Active Substance: METHOTREXATE
     Dosage: UNK
     Route: 065
     Dates: start: 201709, end: 201709
  611. METHOTREXATE [Concomitant]
     Active Substance: METHOTREXATE
     Dosage: UNK
     Route: 065
     Dates: start: 201709, end: 201709
  612. METHOTREXATE [Concomitant]
     Active Substance: METHOTREXATE
     Dosage: UNK
     Route: 065
  613. METHOTREXATE [Concomitant]
     Active Substance: METHOTREXATE
     Dosage: UNK
     Route: 065
  614. METHOTREXATE [Concomitant]
     Active Substance: METHOTREXATE
     Dosage: UNK
  615. METHOTREXATE [Concomitant]
     Active Substance: METHOTREXATE
     Dosage: UNK
  616. METHOTREXATE [Concomitant]
     Active Substance: METHOTREXATE
     Dosage: UNK
  617. METHOTREXATE [Concomitant]
     Active Substance: METHOTREXATE
     Dosage: UNK
  618. METHOTREXATE [Concomitant]
     Active Substance: METHOTREXATE
     Dosage: UNK
  619. METHOTREXATE [Concomitant]
     Active Substance: METHOTREXATE
     Dosage: UNK
  620. METHOTREXATE [Concomitant]
     Active Substance: METHOTREXATE
     Dosage: UNK
  621. METHOTREXATE [Concomitant]
     Active Substance: METHOTREXATE
     Dosage: UNK
  622. METHOTREXATE [Concomitant]
     Active Substance: METHOTREXATE
     Dosage: UNK
  623. METHOTREXATE [Concomitant]
     Active Substance: METHOTREXATE
     Dosage: UNK
  624. METHOTREXATE [Concomitant]
     Active Substance: METHOTREXATE
     Dosage: UNK
  625. METHOTREXATE [Concomitant]
     Active Substance: METHOTREXATE
     Dosage: UNK
  626. METHOTREXATE [Concomitant]
     Active Substance: METHOTREXATE
     Dosage: UNK
     Dates: start: 20090101, end: 20160101
  627. TAMSULOSIN HYDROCHLORIDE [Concomitant]
     Active Substance: TAMSULOSIN HYDROCHLORIDE
     Indication: Ill-defined disorder
     Dosage: UNK
     Route: 065
  628. TAMSULOSIN HYDROCHLORIDE [Concomitant]
     Active Substance: TAMSULOSIN HYDROCHLORIDE
     Dosage: UNK
  629. TAMSULOSIN HYDROCHLORIDE [Concomitant]
     Active Substance: TAMSULOSIN HYDROCHLORIDE
     Dosage: UNK
  630. TAMSULOSIN HYDROCHLORIDE [Concomitant]
     Active Substance: TAMSULOSIN HYDROCHLORIDE
     Dosage: UNK
  631. TAMSULOSIN HYDROCHLORIDE [Concomitant]
     Active Substance: TAMSULOSIN HYDROCHLORIDE
     Dosage: UNK
  632. FOLIC ACID [Concomitant]
     Active Substance: FOLIC ACID
     Indication: Ill-defined disorder
     Dosage: UNK
     Route: 065
  633. FOLIC ACID [Concomitant]
     Active Substance: FOLIC ACID
     Dosage: UNK
  634. FOLIC ACID [Concomitant]
     Active Substance: FOLIC ACID
     Dosage: UNK
  635. FOLIC ACID [Concomitant]
     Active Substance: FOLIC ACID
     Dosage: UNK
  636. FOLIC ACID [Concomitant]
     Active Substance: FOLIC ACID
     Dosage: UNK
  637. XELJANZ [Concomitant]
     Active Substance: TOFACITINIB CITRATE
     Indication: Colitis ulcerative
     Dosage: 10 MILLIGRAM, 2 DOSE PER 1 D
     Route: 048
  638. XELJANZ [Concomitant]
     Active Substance: TOFACITINIB CITRATE
     Dosage: 10 MILLIGRAM
     Route: 048
  639. XELJANZ [Concomitant]
     Active Substance: TOFACITINIB CITRATE
     Dosage: 10 MILLIGRAM
     Route: 048
  640. XELJANZ [Concomitant]
     Active Substance: TOFACITINIB CITRATE
     Dosage: 5 MILLIGRAM, 1 DOSE PER 1D
     Route: 048
  641. XELJANZ [Concomitant]
     Active Substance: TOFACITINIB CITRATE
     Dosage: 10 MILLIGRAM
     Route: 048
  642. XELJANZ [Concomitant]
     Active Substance: TOFACITINIB CITRATE
     Dosage: 10 MILLIGRAM
     Route: 048
  643. XELJANZ [Concomitant]
     Active Substance: TOFACITINIB CITRATE
     Dosage: 5 MILLIGRAM, BID
     Route: 048
  644. XELJANZ [Concomitant]
     Active Substance: TOFACITINIB CITRATE
     Dosage: 5 MILLIGRAM, BID
     Route: 048
  645. XELJANZ [Concomitant]
     Active Substance: TOFACITINIB CITRATE
     Dosage: 5 MILLIGRAM, BID
     Route: 048
  646. XELJANZ [Concomitant]
     Active Substance: TOFACITINIB CITRATE
     Dosage: 5 MILLIGRAM, BID
     Route: 048
  647. XELJANZ [Concomitant]
     Active Substance: TOFACITINIB CITRATE
     Dosage: 5 MILLIGRAM
     Route: 048
  648. CLOBETASONE BUTYRATE [Concomitant]
     Active Substance: CLOBETASONE BUTYRATE
     Indication: Ill-defined disorder
     Dosage: UNK
     Route: 065
  649. CLOBETASONE BUTYRATE [Concomitant]
     Active Substance: CLOBETASONE BUTYRATE
     Dosage: UNK
  650. CLOBETASONE BUTYRATE [Concomitant]
     Active Substance: CLOBETASONE BUTYRATE
     Dosage: UNK
  651. CLOBETASONE BUTYRATE [Concomitant]
     Active Substance: CLOBETASONE BUTYRATE
     Dosage: UNK
  652. CLOBETASONE BUTYRATE [Concomitant]
     Active Substance: CLOBETASONE BUTYRATE
     Dosage: UNK
  653. BISOPROLOL [Concomitant]
     Active Substance: BISOPROLOL
     Indication: Dyscalculia
     Dosage: UNK
     Route: 065
  654. BISOPROLOL [Concomitant]
     Active Substance: BISOPROLOL
     Indication: Ill-defined disorder
     Dosage: UNK
  655. BISOPROLOL [Concomitant]
     Active Substance: BISOPROLOL
     Dosage: UNK
  656. BISOPROLOL [Concomitant]
     Active Substance: BISOPROLOL
     Dosage: UNK
  657. BISOPROLOL [Concomitant]
     Active Substance: BISOPROLOL
     Dosage: UNK
  658. EMPAGLIFLOZIN [Concomitant]
     Active Substance: EMPAGLIFLOZIN
     Indication: Ill-defined disorder
     Dosage: UNK
     Route: 065
  659. EMPAGLIFLOZIN [Concomitant]
     Active Substance: EMPAGLIFLOZIN
     Dosage: UNK
  660. EMPAGLIFLOZIN [Concomitant]
     Active Substance: EMPAGLIFLOZIN
     Dosage: UNK
  661. EMPAGLIFLOZIN [Concomitant]
     Active Substance: EMPAGLIFLOZIN
     Dosage: UNK
  662. EMPAGLIFLOZIN [Concomitant]
     Active Substance: EMPAGLIFLOZIN
     Dosage: UNK
  663. CITALOPRAM [Concomitant]
     Active Substance: CITALOPRAM
     Indication: Ill-defined disorder
     Dosage: UNK
     Route: 065
  664. CITALOPRAM [Concomitant]
     Active Substance: CITALOPRAM
     Dosage: UNK
  665. CITALOPRAM [Concomitant]
     Active Substance: CITALOPRAM
     Dosage: UNK
  666. CITALOPRAM [Concomitant]
     Active Substance: CITALOPRAM
     Dosage: UNK
  667. CITALOPRAM [Concomitant]
     Active Substance: CITALOPRAM
     Dosage: UNK
  668. PRAVASTATIN [Concomitant]
     Active Substance: PRAVASTATIN
     Indication: Ill-defined disorder
     Dosage: UNK
     Route: 065
  669. PRAVASTATIN [Concomitant]
     Active Substance: PRAVASTATIN
     Dosage: UNK
  670. PRAVASTATIN [Concomitant]
     Active Substance: PRAVASTATIN
     Dosage: UNK
  671. PRAVASTATIN [Concomitant]
     Active Substance: PRAVASTATIN
     Dosage: UNK
  672. PRAVASTATIN [Concomitant]
     Active Substance: PRAVASTATIN
     Dosage: UNK
  673. LANSOPRAZOLE [Concomitant]
     Active Substance: LANSOPRAZOLE
     Indication: Ill-defined disorder
     Dosage: UNK
     Route: 065
  674. LANSOPRAZOLE [Concomitant]
     Active Substance: LANSOPRAZOLE
  675. LANSOPRAZOLE [Concomitant]
     Active Substance: LANSOPRAZOLE
     Dosage: UNK
  676. LANSOPRAZOLE [Concomitant]
     Active Substance: LANSOPRAZOLE
  677. LANSOPRAZOLE [Concomitant]
     Active Substance: LANSOPRAZOLE
  678. ACETAMINOPHEN [Concomitant]
     Active Substance: ACETAMINOPHEN
     Indication: Product used for unknown indication
     Dosage: UNK
     Route: 065
  679. ACETAMINOPHEN [Concomitant]
     Active Substance: ACETAMINOPHEN
     Dosage: UNK
  680. ACETAMINOPHEN [Concomitant]
     Active Substance: ACETAMINOPHEN
     Dosage: UNK
  681. ACETAMINOPHEN [Concomitant]
     Active Substance: ACETAMINOPHEN
     Dosage: UNK
  682. ACETAMINOPHEN [Concomitant]
     Active Substance: ACETAMINOPHEN
     Dosage: UNK
  683. TETRAHYDROZOLINE HYDROCHLORIDE [Concomitant]
     Active Substance: TETRAHYDROZOLINE HYDROCHLORIDE
     Indication: Product used for unknown indication
     Dosage: UNK
     Route: 065
  684. TETRAHYDROZOLINE HYDROCHLORIDE [Concomitant]
     Active Substance: TETRAHYDROZOLINE HYDROCHLORIDE
     Dosage: EYE DROPS
     Route: 065
  685. TETRAHYDROZOLINE HYDROCHLORIDE [Concomitant]
     Active Substance: TETRAHYDROZOLINE HYDROCHLORIDE
     Dosage: UNK
  686. TETRAHYDROZOLINE HYDROCHLORIDE [Concomitant]
     Active Substance: TETRAHYDROZOLINE HYDROCHLORIDE
     Dosage: UNK
  687. TETRAHYDROZOLINE HYDROCHLORIDE [Concomitant]
     Active Substance: TETRAHYDROZOLINE HYDROCHLORIDE
     Dosage: EYE DROPS
  688. TETRAHYDROZOLINE HYDROCHLORIDE [Concomitant]
     Active Substance: TETRAHYDROZOLINE HYDROCHLORIDE
     Dosage: UNK
  689. TETRAHYDROZOLINE HYDROCHLORIDE [Concomitant]
     Active Substance: TETRAHYDROZOLINE HYDROCHLORIDE
     Dosage: UNK
  690. NITROFURANTOIN [Concomitant]
     Active Substance: NITROFURANTOIN
     Indication: Ill-defined disorder
     Dosage: UNK
     Route: 065
  691. NITROFURANTOIN [Concomitant]
     Active Substance: NITROFURANTOIN
     Dosage: UNK
  692. NITROFURANTOIN [Concomitant]
     Active Substance: NITROFURANTOIN
     Dosage: UNK
  693. NITROFURANTOIN [Concomitant]
     Active Substance: NITROFURANTOIN
     Dosage: UNK
  694. NITROFURANTOIN [Concomitant]
     Active Substance: NITROFURANTOIN
     Dosage: UNK
  695. CALCIUM CARBONATE\MAGNESIUM CARBONATE [Concomitant]
     Active Substance: CALCIUM CARBONATE\MAGNESIUM CARBONATE
     Indication: Product used for unknown indication
     Dosage: UNK
     Route: 065
  696. MINERAL OIL [Concomitant]
     Active Substance: MINERAL OIL
     Indication: Product used for unknown indication
     Dosage: UNK
     Route: 065
  697. ALGINIC ACID\ALUMINUM HYDROXIDE\MAGNESIUM TRISILICATE [Concomitant]
     Active Substance: ALGINIC ACID\ALUMINUM HYDROXIDE\MAGNESIUM TRISILICATE
     Indication: Product used for unknown indication
     Dosage: UNK
     Route: 065
  698. CALCIUM CARBONATE\CHOLECALCIFEROL [Concomitant]
     Active Substance: CALCIUM CARBONATE\CHOLECALCIFEROL
     Indication: Product used for unknown indication
     Dosage: UNK
     Route: 065
  699. CALCIUM CARBONATE\CHOLECALCIFEROL [Concomitant]
     Active Substance: CALCIUM CARBONATE\CHOLECALCIFEROL
     Dosage: UNK
  700. CALCIUM CARBONATE\CHOLECALCIFEROL [Concomitant]
     Active Substance: CALCIUM CARBONATE\CHOLECALCIFEROL
     Dosage: UNK
  701. CALCIUM CARBONATE\CHOLECALCIFEROL [Concomitant]
     Active Substance: CALCIUM CARBONATE\CHOLECALCIFEROL
     Dosage: UNK
  702. LYRICA [Concomitant]
     Active Substance: PREGABALIN
     Indication: Ill-defined disorder
     Dosage: UNK
     Route: 065
  703. LYRICA [Concomitant]
     Active Substance: PREGABALIN
     Dosage: UNK
  704. LYRICA [Concomitant]
     Active Substance: PREGABALIN
     Dosage: UNK
  705. LYRICA [Concomitant]
     Active Substance: PREGABALIN
     Dosage: UNK
  706. LYRICA [Concomitant]
     Active Substance: PREGABALIN
     Dosage: UNK
  707. POLYETHYLENE GLYCOL 3350\POTASSIUM CHLORIDE\SODIUM BICARBONATE\SODIUM [Concomitant]
     Active Substance: POLYETHYLENE GLYCOL 3350\POTASSIUM CHLORIDE\SODIUM BICARBONATE\SODIUM CHLORIDE
     Indication: Product used for unknown indication
     Dosage: UNK
     Route: 065
  708. POLYETHYLENE GLYCOL 3350\POTASSIUM CHLORIDE\SODIUM BICARBONATE\SODIUM [Concomitant]
     Active Substance: POLYETHYLENE GLYCOL 3350\POTASSIUM CHLORIDE\SODIUM BICARBONATE\SODIUM CHLORIDE
     Dosage: UNK
  709. POLYETHYLENE GLYCOL 3350\POTASSIUM CHLORIDE\SODIUM BICARBONATE\SODIUM [Concomitant]
     Active Substance: POLYETHYLENE GLYCOL 3350\POTASSIUM CHLORIDE\SODIUM BICARBONATE\SODIUM CHLORIDE
     Dosage: UNK
  710. POLYETHYLENE GLYCOL 3350\POTASSIUM CHLORIDE\SODIUM BICARBONATE\SODIUM [Concomitant]
     Active Substance: POLYETHYLENE GLYCOL 3350\POTASSIUM CHLORIDE\SODIUM BICARBONATE\SODIUM CHLORIDE
     Dosage: UNK
  711. POLYETHYLENE GLYCOL 3350\POTASSIUM CHLORIDE\SODIUM BICARBONATE\SODIUM [Concomitant]
     Active Substance: POLYETHYLENE GLYCOL 3350\POTASSIUM CHLORIDE\SODIUM BICARBONATE\SODIUM CHLORIDE
     Dosage: UNK
  712. LATANOPROST [Concomitant]
     Active Substance: LATANOPROST
     Indication: Product used for unknown indication
     Dosage: UNK
     Route: 065
  713. LATANOPROST [Concomitant]
     Active Substance: LATANOPROST
     Dosage: UNK
  714. LATANOPROST [Concomitant]
     Active Substance: LATANOPROST
     Dosage: UNK
  715. LATANOPROST [Concomitant]
     Active Substance: LATANOPROST
     Dosage: UNK
  716. LATANOPROST [Concomitant]
     Active Substance: LATANOPROST
     Dosage: UNK
  717. BETNOVATE [Concomitant]
     Active Substance: BETAMETHASONE
     Indication: Product used for unknown indication
     Dosage: UNK
     Route: 065
  718. BETNOVATE [Concomitant]
     Active Substance: BETAMETHASONE
     Dosage: UNK
  719. BETNOVATE [Concomitant]
     Active Substance: BETAMETHASONE
     Dosage: UNK
  720. BETNOVATE [Concomitant]
     Active Substance: BETAMETHASONE
     Dosage: UNK
  721. BETNOVATE [Concomitant]
     Active Substance: BETAMETHASONE
     Dosage: UNK
  722. MOVICOL [Concomitant]
     Active Substance: POLYETHYLENE GLYCOL 3350\POTASSIUM CHLORIDE\SODIUM BICARBONATE\SODIUM CHLORIDE
     Indication: Product used for unknown indication
     Dosage: UNK
     Route: 065
  723. ALGINIC ACID;ALUMINIUM HYDROXIDE GEL, DRIED;CALCIUM CARBONATE;MAGNESIU [Concomitant]
     Indication: Product used for unknown indication
     Dosage: UNK
     Route: 065
  724. ALUMINIUM HYDROXIDE;CALCIUM CARBONATE;SODIUM ALGINATE;SODIUM BICARBONA [Concomitant]
     Indication: Product used for unknown indication
     Dosage: UNK
     Route: 065
  725. CALCIUM CARBONATE;SODIUM ALGINATE;SODIUM BICARBONATE [Concomitant]
     Indication: Product used for unknown indication
     Dosage: UNK
     Route: 065
  726. CALCIUM CARBONATE;SODIUM ALGINATE;SODIUM BICARBONATE [Concomitant]
     Dosage: UNK
  727. CALCIUM CARBONATE;SODIUM ALGINATE;SODIUM BICARBONATE [Concomitant]
     Dosage: UNK
  728. CALCIUM CARBONATE\CHOLECALCIFEROL [Concomitant]
     Active Substance: CALCIUM CARBONATE\CHOLECALCIFEROL
     Indication: Product used for unknown indication
     Dosage: UNK
     Route: 065
  729. CALCIUM CARBONATE\CHOLECALCIFEROL [Concomitant]
     Active Substance: CALCIUM CARBONATE\CHOLECALCIFEROL
     Dosage: UNK
  730. MINERAL OIL [Concomitant]
     Active Substance: MINERAL OIL
     Indication: Ill-defined disorder
     Dosage: UNK
     Route: 065
  731. MINERAL OIL [Concomitant]
     Active Substance: MINERAL OIL
     Dosage: UNK
  732. MINERAL OIL [Concomitant]
     Active Substance: MINERAL OIL
     Dosage: UNK
  733. MINERAL OIL [Concomitant]
     Active Substance: MINERAL OIL
     Dosage: UNK
  734. MINERAL OIL [Concomitant]
     Active Substance: MINERAL OIL
     Dosage: UNK
  735. NAPHAZOLINE HYDROCHLORIDE [Concomitant]
     Active Substance: NAPHAZOLINE HYDROCHLORIDE
     Indication: Ill-defined disorder
     Dosage: UNK
     Route: 065
  736. NAPHAZOLINE HYDROCHLORIDE [Concomitant]
     Active Substance: NAPHAZOLINE HYDROCHLORIDE
     Dosage: UNK
  737. NAPHAZOLINE HYDROCHLORIDE [Concomitant]
     Active Substance: NAPHAZOLINE HYDROCHLORIDE
     Dosage: UNK
  738. NAPHAZOLINE HYDROCHLORIDE [Concomitant]
     Active Substance: NAPHAZOLINE HYDROCHLORIDE
     Dosage: UNK
  739. NAPHAZOLINE HYDROCHLORIDE [Concomitant]
     Active Substance: NAPHAZOLINE HYDROCHLORIDE
     Dosage: UNK
  740. PARAFFIN [Concomitant]
     Active Substance: PARAFFIN
     Indication: Product used for unknown indication
     Dosage: UNK
     Route: 065
  741. TETRAHYDROZOLINE HYDROCHLORIDE [Concomitant]
     Active Substance: TETRAHYDROZOLINE HYDROCHLORIDE
     Indication: Product used for unknown indication
     Dosage: UNK
     Route: 065
  742. TOFACITINIB CITRATE [Concomitant]
     Active Substance: TOFACITINIB CITRATE
     Indication: Ill-defined disorder
     Dosage: UNK
     Route: 065
  743. TOFACITINIB CITRATE [Concomitant]
     Active Substance: TOFACITINIB CITRATE
     Indication: Product used for unknown indication
     Dosage: UNK
     Route: 065
  744. TOFACITINIB CITRATE [Concomitant]
     Active Substance: TOFACITINIB CITRATE
     Dosage: UNK
  745. TOFACITINIB CITRATE [Concomitant]
     Active Substance: TOFACITINIB CITRATE
     Dosage: UNK
  746. TOFACITINIB CITRATE [Concomitant]
     Active Substance: TOFACITINIB CITRATE
     Dosage: UNK

REACTIONS (52)
  - Arthritis [Not Recovered/Not Resolved]
  - Bronchiectasis [Unknown]
  - Burns second degree [Not Recovered/Not Resolved]
  - Cardiac murmur [Not Recovered/Not Resolved]
  - Catarrh [Not Recovered/Not Resolved]
  - Cerebrovascular accident [Not Recovered/Not Resolved]
  - COVID-19 [Not Recovered/Not Resolved]
  - Deep vein thrombosis [Unknown]
  - Dysgeusia [Not Recovered/Not Resolved]
  - Frequent bowel movements [Not Recovered/Not Resolved]
  - Gingival pain [Not Recovered/Not Resolved]
  - Haematochezia [Not Recovered/Not Resolved]
  - Hypopnoea [Not Recovered/Not Resolved]
  - Impaired quality of life [Unknown]
  - Impaired work ability [Not Recovered/Not Resolved]
  - Loss of personal independence in daily activities [Not Recovered/Not Resolved]
  - Migraine [Not Recovered/Not Resolved]
  - Nightmare [Not Recovered/Not Resolved]
  - Pain [Not Recovered/Not Resolved]
  - Pain in extremity [Not Recovered/Not Resolved]
  - Palpitations [Not Recovered/Not Resolved]
  - Parosmia [Not Recovered/Not Resolved]
  - Pulmonary embolism [Not Recovered/Not Resolved]
  - Depression [Not Recovered/Not Resolved]
  - Rhinitis [Not Recovered/Not Resolved]
  - Stress [Not Recovered/Not Resolved]
  - Swollen tongue [Not Recovered/Not Resolved]
  - Weight decreased [Not Recovered/Not Resolved]
  - Vertigo [Not Recovered/Not Resolved]
  - Abdominal discomfort [Not Recovered/Not Resolved]
  - Somnolence [Not Recovered/Not Resolved]
  - Systemic lupus erythematosus [Not Recovered/Not Resolved]
  - Rectal haemorrhage [Unknown]
  - Tubulointerstitial nephritis [Not Recovered/Not Resolved]
  - Tinnitus [Not Recovered/Not Resolved]
  - Rash [Not Recovered/Not Resolved]
  - Colitis ulcerative [Not Recovered/Not Resolved]
  - Confusional state [Not Recovered/Not Resolved]
  - Drug ineffective [Unknown]
  - Headache [Not Recovered/Not Resolved]
  - Eczema [Not Recovered/Not Resolved]
  - Fatigue [Not Recovered/Not Resolved]
  - Condition aggravated [Unknown]
  - Colitis ulcerative [Not Recovered/Not Resolved]
  - Steroid dependence [Not Recovered/Not Resolved]
  - Pyrexia [Not Recovered/Not Resolved]
  - Medication error [Unknown]
  - Off label use [Not Recovered/Not Resolved]
  - Inappropriate schedule of product administration [Not Recovered/Not Resolved]
  - Product use in unapproved indication [Unknown]
  - Intentional product use issue [Not Recovered/Not Resolved]
  - Accidental overdose [Not Recovered/Not Resolved]
